FAERS Safety Report 24532379 (Version 2)
Quarter: 2025Q1

REPORT INFORMATION
  Report Type: Spontaneous
  Country: CA (occurrence: CA)
  Receive Date: 20241022
  Receipt Date: 20250203
  Transmission Date: 20250409
  Serious: Yes (Death, Life-Threatening, Hospitalization, Disabling, Congenital Anomaly, Other)
  Sender: ALCON
  Company Number: CA-ALCON LABORATORIES-ALC2024CA004636

PATIENT
  Age: 40 Year
  Sex: Female
  Weight: 96 kg

DRUGS (1186)
  1. ACETAMINOPHEN [Suspect]
     Active Substance: ACETAMINOPHEN
     Route: 065
  2. ACETAMINOPHEN [Suspect]
     Active Substance: ACETAMINOPHEN
     Route: 065
  3. ACETAMINOPHEN [Suspect]
     Active Substance: ACETAMINOPHEN
     Route: 065
  4. ACETAMINOPHEN [Suspect]
     Active Substance: ACETAMINOPHEN
     Route: 065
  5. ACETAMINOPHEN [Suspect]
     Active Substance: ACETAMINOPHEN
     Route: 058
  6. ACETAMINOPHEN [Suspect]
     Active Substance: ACETAMINOPHEN
     Indication: Rheumatoid arthritis
     Route: 065
  7. ACETAMINOPHEN [Suspect]
     Active Substance: ACETAMINOPHEN
     Route: 065
  8. ACETAMINOPHEN [Suspect]
     Active Substance: ACETAMINOPHEN
     Route: 065
  9. ACETAMINOPHEN [Suspect]
     Active Substance: ACETAMINOPHEN
     Route: 065
  10. ACETAMINOPHEN [Suspect]
     Active Substance: ACETAMINOPHEN
     Route: 065
  11. ACETAMINOPHEN [Suspect]
     Active Substance: ACETAMINOPHEN
     Route: 065
  12. ACETAMINOPHEN [Suspect]
     Active Substance: ACETAMINOPHEN
     Route: 065
  13. ACETAMINOPHEN [Suspect]
     Active Substance: ACETAMINOPHEN
     Route: 065
  14. ACETAMINOPHEN\CODEINE PHOSPHATE [Suspect]
     Active Substance: ACETAMINOPHEN\CODEINE PHOSPHATE
     Indication: Product used for unknown indication
     Route: 065
  15. ACETAMINOPHEN\CODEINE PHOSPHATE [Suspect]
     Active Substance: ACETAMINOPHEN\CODEINE PHOSPHATE
     Route: 065
  16. ACETAMINOPHEN\CODEINE PHOSPHATE [Suspect]
     Active Substance: ACETAMINOPHEN\CODEINE PHOSPHATE
     Route: 065
  17. ACETAMINOPHEN\CODEINE PHOSPHATE [Suspect]
     Active Substance: ACETAMINOPHEN\CODEINE PHOSPHATE
     Route: 065
  18. ACTEMRA [Suspect]
     Active Substance: TOCILIZUMAB
     Route: 065
  19. ACTEMRA [Suspect]
     Active Substance: TOCILIZUMAB
     Route: 058
  20. ACTEMRA [Suspect]
     Active Substance: TOCILIZUMAB
     Route: 058
  21. ACTEMRA [Suspect]
     Active Substance: TOCILIZUMAB
     Route: 058
  22. ACTEMRA [Suspect]
     Active Substance: TOCILIZUMAB
     Route: 058
  23. ACTEMRA [Suspect]
     Active Substance: TOCILIZUMAB
     Route: 065
  24. ACTEMRA [Suspect]
     Active Substance: TOCILIZUMAB
     Route: 058
  25. ACTEMRA [Suspect]
     Active Substance: TOCILIZUMAB
     Route: 058
  26. ACTEMRA [Suspect]
     Active Substance: TOCILIZUMAB
     Route: 065
  27. ACTEMRA [Suspect]
     Active Substance: TOCILIZUMAB
     Route: 042
  28. ACTEMRA [Suspect]
     Active Substance: TOCILIZUMAB
     Route: 042
  29. ACTEMRA [Suspect]
     Active Substance: TOCILIZUMAB
     Route: 058
  30. ACTEMRA [Suspect]
     Active Substance: TOCILIZUMAB
     Route: 042
  31. ACTEMRA [Suspect]
     Active Substance: TOCILIZUMAB
     Route: 065
  32. ACTEMRA [Suspect]
     Active Substance: TOCILIZUMAB
     Route: 042
  33. ACTEMRA [Suspect]
     Active Substance: TOCILIZUMAB
     Route: 042
  34. ACTEMRA [Suspect]
     Active Substance: TOCILIZUMAB
     Route: 058
  35. ACTEMRA [Suspect]
     Active Substance: TOCILIZUMAB
     Route: 017
  36. ACTEMRA [Suspect]
     Active Substance: TOCILIZUMAB
     Route: 042
  37. ACTEMRA [Suspect]
     Active Substance: TOCILIZUMAB
     Route: 058
  38. ACTEMRA [Suspect]
     Active Substance: TOCILIZUMAB
     Route: 058
  39. ACTEMRA [Suspect]
     Active Substance: TOCILIZUMAB
     Route: 042
  40. ACTEMRA [Suspect]
     Active Substance: TOCILIZUMAB
     Route: 042
  41. ACTEMRA [Suspect]
     Active Substance: TOCILIZUMAB
     Route: 042
  42. ACTEMRA [Suspect]
     Active Substance: TOCILIZUMAB
     Route: 042
  43. ACTEMRA [Suspect]
     Active Substance: TOCILIZUMAB
     Route: 042
  44. ACTEMRA [Suspect]
     Active Substance: TOCILIZUMAB
     Route: 058
  45. ACTEMRA [Suspect]
     Active Substance: TOCILIZUMAB
     Route: 058
  46. ACTEMRA [Suspect]
     Active Substance: TOCILIZUMAB
     Route: 042
  47. ACTEMRA [Suspect]
     Active Substance: TOCILIZUMAB
     Route: 058
  48. ACTEMRA [Suspect]
     Active Substance: TOCILIZUMAB
     Route: 058
  49. ACTEMRA [Suspect]
     Active Substance: TOCILIZUMAB
     Route: 058
  50. ACTEMRA [Suspect]
     Active Substance: TOCILIZUMAB
     Route: 061
  51. ACTEMRA [Suspect]
     Active Substance: TOCILIZUMAB
     Indication: Rheumatoid arthritis
     Route: 065
  52. ACTEMRA [Suspect]
     Active Substance: TOCILIZUMAB
     Route: 065
  53. ACTEMRA [Suspect]
     Active Substance: TOCILIZUMAB
     Route: 065
  54. ADALIMUMAB [Suspect]
     Active Substance: ADALIMUMAB
     Indication: Rheumatoid arthritis
     Route: 058
  55. ADALIMUMAB [Suspect]
     Active Substance: ADALIMUMAB
     Route: 058
  56. ADALIMUMAB [Suspect]
     Active Substance: ADALIMUMAB
     Route: 058
  57. ADALIMUMAB [Suspect]
     Active Substance: ADALIMUMAB
     Route: 058
  58. ADALIMUMAB [Suspect]
     Active Substance: ADALIMUMAB
     Route: 065
  59. ADALIMUMAB [Suspect]
     Active Substance: ADALIMUMAB
     Route: 058
  60. ADALIMUMAB [Suspect]
     Active Substance: ADALIMUMAB
     Route: 058
  61. AIMOVIG [Suspect]
     Active Substance: ERENUMAB-AOOE
     Indication: Migraine
     Route: 065
  62. AIMOVIG [Suspect]
     Active Substance: ERENUMAB-AOOE
     Route: 065
  63. AIMOVIG [Suspect]
     Active Substance: ERENUMAB-AOOE
     Route: 065
  64. AIMOVIG [Suspect]
     Active Substance: ERENUMAB-AOOE
     Route: 065
  65. AIMOVIG [Suspect]
     Active Substance: ERENUMAB-AOOE
     Route: 065
  66. AIMOVIG [Suspect]
     Active Substance: ERENUMAB-AOOE
     Route: 065
  67. AIMOVIG [Suspect]
     Active Substance: ERENUMAB-AOOE
     Route: 065
  68. AIMOVIG [Suspect]
     Active Substance: ERENUMAB-AOOE
     Route: 065
  69. ALENDRONATE SODIUM [Suspect]
     Active Substance: ALENDRONATE SODIUM
     Route: 048
  70. ALENDRONATE SODIUM [Suspect]
     Active Substance: ALENDRONATE SODIUM
     Route: 048
  71. ALENDRONATE SODIUM [Suspect]
     Active Substance: ALENDRONATE SODIUM
     Indication: Rheumatoid arthritis
     Route: 065
  72. ALENDRONATE SODIUM [Suspect]
     Active Substance: ALENDRONATE SODIUM
     Route: 065
  73. ALENDRONATE SODIUM [Suspect]
     Active Substance: ALENDRONATE SODIUM
     Route: 065
  74. ALENDRONIC ACID [Suspect]
     Active Substance: ALENDRONIC ACID
     Route: 005
  75. ALENDRONIC ACID [Suspect]
     Active Substance: ALENDRONIC ACID
     Route: 016
  76. ALENDRONIC ACID [Suspect]
     Active Substance: ALENDRONIC ACID
     Route: 048
  77. ALENDRONIC ACID [Suspect]
     Active Substance: ALENDRONIC ACID
     Route: 048
  78. ALENDRONIC ACID [Suspect]
     Active Substance: ALENDRONIC ACID
     Indication: Rheumatoid arthritis
     Route: 065
  79. ALENDRONIC ACID [Suspect]
     Active Substance: ALENDRONIC ACID
     Route: 065
  80. ALENDRONIC ACID [Suspect]
     Active Substance: ALENDRONIC ACID
     Route: 065
  81. ALENDRONIC ACID [Suspect]
     Active Substance: ALENDRONIC ACID
     Route: 065
  82. ALENDRONIC ACID [Suspect]
     Active Substance: ALENDRONIC ACID
     Route: 065
  83. ALENDRONIC ACID [Suspect]
     Active Substance: ALENDRONIC ACID
     Route: 065
  84. ALENDRONIC ACID [Suspect]
     Active Substance: ALENDRONIC ACID
     Route: 065
  85. ALENDRONIC ACID [Suspect]
     Active Substance: ALENDRONIC ACID
     Route: 065
  86. ALENDRONIC ACID [Suspect]
     Active Substance: ALENDRONIC ACID
     Route: 065
  87. ALENDRONIC ACID [Suspect]
     Active Substance: ALENDRONIC ACID
     Route: 065
  88. DICLOFENAC SODIUM [Suspect]
     Active Substance: DICLOFENAC SODIUM
     Indication: Product used for unknown indication
     Route: 065
  89. LEFLUNOMIDE [Suspect]
     Active Substance: LEFLUNOMIDE
     Route: 048
  90. LEFLUNOMIDE [Suspect]
     Active Substance: LEFLUNOMIDE
     Route: 048
  91. LEFLUNOMIDE [Suspect]
     Active Substance: LEFLUNOMIDE
     Route: 065
  92. LEFLUNOMIDE [Suspect]
     Active Substance: LEFLUNOMIDE
     Route: 048
  93. LEFLUNOMIDE [Suspect]
     Active Substance: LEFLUNOMIDE
     Route: 065
  94. LEFLUNOMIDE [Suspect]
     Active Substance: LEFLUNOMIDE
     Route: 065
  95. LEFLUNOMIDE [Suspect]
     Active Substance: LEFLUNOMIDE
     Route: 065
  96. LEFLUNOMIDE [Suspect]
     Active Substance: LEFLUNOMIDE
     Route: 065
  97. LEFLUNOMIDE [Suspect]
     Active Substance: LEFLUNOMIDE
     Indication: Rheumatoid arthritis
     Route: 065
  98. PREDNISONE [Suspect]
     Active Substance: PREDNISONE
     Route: 048
  99. PREDNISONE [Suspect]
     Active Substance: PREDNISONE
     Route: 065
  100. PREDNISONE [Suspect]
     Active Substance: PREDNISONE
     Route: 065
  101. PREDNISONE [Suspect]
     Active Substance: PREDNISONE
     Route: 065
  102. PREDNISONE [Suspect]
     Active Substance: PREDNISONE
     Route: 065
  103. PREDNISONE [Suspect]
     Active Substance: PREDNISONE
     Route: 048
  104. PREDNISONE [Suspect]
     Active Substance: PREDNISONE
     Route: 048
  105. PREDNISONE [Suspect]
     Active Substance: PREDNISONE
     Route: 048
  106. PREDNISONE [Suspect]
     Active Substance: PREDNISONE
     Route: 065
  107. PREDNISONE [Suspect]
     Active Substance: PREDNISONE
     Route: 065
  108. PREDNISONE [Suspect]
     Active Substance: PREDNISONE
     Route: 065
  109. PREDNISONE [Suspect]
     Active Substance: PREDNISONE
     Route: 065
  110. PREDNISONE [Suspect]
     Active Substance: PREDNISONE
     Route: 065
  111. PREDNISONE [Suspect]
     Active Substance: PREDNISONE
     Route: 048
  112. PREDNISONE [Suspect]
     Active Substance: PREDNISONE
     Route: 048
  113. PREDNISONE [Suspect]
     Active Substance: PREDNISONE
     Route: 048
  114. PREDNISONE [Suspect]
     Active Substance: PREDNISONE
     Route: 048
  115. PREDNISONE [Suspect]
     Active Substance: PREDNISONE
     Route: 065
  116. PREDNISONE [Suspect]
     Active Substance: PREDNISONE
     Route: 065
  117. PREDNISONE [Suspect]
     Active Substance: PREDNISONE
     Route: 065
  118. PREDNISONE [Suspect]
     Active Substance: PREDNISONE
     Route: 048
  119. PREDNISONE [Suspect]
     Active Substance: PREDNISONE
     Route: 048
  120. PREDNISONE [Suspect]
     Active Substance: PREDNISONE
     Route: 048
  121. PREDNISONE [Suspect]
     Active Substance: PREDNISONE
     Route: 048
  122. PREDNISONE [Suspect]
     Active Substance: PREDNISONE
     Route: 048
  123. PREDNISONE [Suspect]
     Active Substance: PREDNISONE
     Route: 048
  124. PREDNISONE [Suspect]
     Active Substance: PREDNISONE
     Route: 048
  125. PREDNISONE [Suspect]
     Active Substance: PREDNISONE
     Route: 048
  126. PREDNISONE [Suspect]
     Active Substance: PREDNISONE
     Indication: Rheumatoid arthritis
     Route: 065
  127. PREDNISONE [Suspect]
     Active Substance: PREDNISONE
     Route: 065
  128. PREDNISONE [Suspect]
     Active Substance: PREDNISONE
     Route: 065
  129. PREDNISONE [Suspect]
     Active Substance: PREDNISONE
     Route: 065
  130. PREDNISONE [Suspect]
     Active Substance: PREDNISONE
     Route: 048
  131. PREDNISONE [Suspect]
     Active Substance: PREDNISONE
     Route: 048
  132. APREMILAST [Suspect]
     Active Substance: APREMILAST
     Route: 065
  133. APREMILAST [Suspect]
     Active Substance: APREMILAST
     Route: 065
  134. APREMILAST [Suspect]
     Active Substance: APREMILAST
     Route: 065
  135. APREMILAST [Suspect]
     Active Substance: APREMILAST
     Indication: Product used for unknown indication
     Route: 065
  136. ARAVA [Suspect]
     Active Substance: LEFLUNOMIDE
     Route: 005
  137. ARAVA [Suspect]
     Active Substance: LEFLUNOMIDE
     Route: 048
  138. ARAVA [Suspect]
     Active Substance: LEFLUNOMIDE
     Route: 048
  139. ARAVA [Suspect]
     Active Substance: LEFLUNOMIDE
     Route: 065
  140. ARAVA [Suspect]
     Active Substance: LEFLUNOMIDE
     Route: 048
  141. ARAVA [Suspect]
     Active Substance: LEFLUNOMIDE
     Route: 065
  142. ARAVA [Suspect]
     Active Substance: LEFLUNOMIDE
     Route: 005
  143. ARAVA [Suspect]
     Active Substance: LEFLUNOMIDE
     Indication: Rheumatoid arthritis
     Route: 065
  144. ARAVA [Suspect]
     Active Substance: LEFLUNOMIDE
     Route: 065
  145. ATOMOXETINE [Suspect]
     Active Substance: ATOMOXETINE
     Route: 065
  146. ATOMOXETINE [Suspect]
     Active Substance: ATOMOXETINE
     Indication: Migraine
     Route: 065
  147. ATOMOXETINE [Suspect]
     Active Substance: ATOMOXETINE
     Route: 065
  148. ATOMOXETINE HYDROCHLORIDE [Suspect]
     Active Substance: ATOMOXETINE HYDROCHLORIDE
     Indication: Migraine
     Route: 065
  149. ATOMOXETINE HYDROCHLORIDE [Suspect]
     Active Substance: ATOMOXETINE HYDROCHLORIDE
     Route: 065
  150. AZATHIOPRINE [Suspect]
     Active Substance: AZATHIOPRINE
     Indication: Product used for unknown indication
     Route: 065
  151. AZATHIOPRINE [Suspect]
     Active Substance: AZATHIOPRINE
     Route: 065
  152. AZATHIOPRINE SODIUM [Suspect]
     Active Substance: AZATHIOPRINE SODIUM
     Route: 065
  153. AZATHIOPRINE SODIUM [Suspect]
     Active Substance: AZATHIOPRINE SODIUM
     Indication: Product used for unknown indication
     Route: 065
  154. BERINERT [Suspect]
     Active Substance: HUMAN C1-ESTERASE INHIBITOR
     Indication: Product used for unknown indication
     Route: 065
  155. BERINERT [Suspect]
     Active Substance: HUMAN C1-ESTERASE INHIBITOR
     Route: 065
  156. BERINERT [Suspect]
     Active Substance: HUMAN C1-ESTERASE INHIBITOR
     Route: 065
  157. BOTULINUM TOXIN TYPE A [Suspect]
     Active Substance: BOTULINUM TOXIN TYPE A
     Indication: Product used for unknown indication
     Route: 065
  158. BOTULINUM TOXIN TYPE A [Suspect]
     Active Substance: BOTULINUM TOXIN TYPE A
     Route: 065
  159. BUTRANS [Suspect]
     Active Substance: BUPRENORPHINE
     Indication: Product used for unknown indication
     Route: 065
  160. BUTRANS [Suspect]
     Active Substance: BUPRENORPHINE
     Route: 065
  161. CALCIUM ASCORBATE [Suspect]
     Active Substance: CALCIUM ASCORBATE
     Indication: Product used for unknown indication
     Route: 065
  162. CALCIUM ASCORBATE [Suspect]
     Active Substance: CALCIUM ASCORBATE
     Route: 065
  163. CALCIUM CITRATE [Suspect]
     Active Substance: CALCIUM CITRATE
     Indication: Product used for unknown indication
     Route: 065
  164. CALCIUM GLUBIONATE [Suspect]
     Active Substance: CALCIUM GLUBIONATE
     Indication: Product used for unknown indication
     Route: 065
  165. CANDESARTAN [Suspect]
     Active Substance: CANDESARTAN
     Route: 048
  166. CANDESARTAN [Suspect]
     Active Substance: CANDESARTAN
     Route: 048
  167. CANDESARTAN [Suspect]
     Active Substance: CANDESARTAN
     Indication: Product used for unknown indication
     Route: 065
  168. CELEBREX [Suspect]
     Active Substance: CELECOXIB
     Indication: Product used for unknown indication
     Route: 065
  169. CELEBREX [Suspect]
     Active Substance: CELECOXIB
     Route: 065
  170. CELEBREX [Suspect]
     Active Substance: CELECOXIB
     Route: 065
  171. CELEBREX [Suspect]
     Active Substance: CELECOXIB
     Route: 065
  172. CELEBREX [Suspect]
     Active Substance: CELECOXIB
     Route: 065
  173. CELEBREX [Suspect]
     Active Substance: CELECOXIB
     Route: 048
  174. CELEBREX [Suspect]
     Active Substance: CELECOXIB
     Route: 048
  175. CELEBREX [Suspect]
     Active Substance: CELECOXIB
     Route: 048
  176. CELEBREX [Suspect]
     Active Substance: CELECOXIB
     Route: 048
  177. CELEBREX [Suspect]
     Active Substance: CELECOXIB
     Route: 065
  178. CERTOLIZUMAB PEGOL [Suspect]
     Active Substance: CERTOLIZUMAB PEGOL
     Route: 058
  179. CERTOLIZUMAB PEGOL [Suspect]
     Active Substance: CERTOLIZUMAB PEGOL
     Route: 058
  180. CERTOLIZUMAB PEGOL [Suspect]
     Active Substance: CERTOLIZUMAB PEGOL
     Route: 058
  181. CERTOLIZUMAB PEGOL [Suspect]
     Active Substance: CERTOLIZUMAB PEGOL
     Route: 058
  182. CERTOLIZUMAB PEGOL [Suspect]
     Active Substance: CERTOLIZUMAB PEGOL
     Route: 005
  183. CERTOLIZUMAB PEGOL [Suspect]
     Active Substance: CERTOLIZUMAB PEGOL
     Route: 016
  184. CERTOLIZUMAB PEGOL [Suspect]
     Active Substance: CERTOLIZUMAB PEGOL
     Route: 058
  185. CERTOLIZUMAB PEGOL [Suspect]
     Active Substance: CERTOLIZUMAB PEGOL
     Route: 058
  186. CERTOLIZUMAB PEGOL [Suspect]
     Active Substance: CERTOLIZUMAB PEGOL
     Route: 065
  187. CERTOLIZUMAB PEGOL [Suspect]
     Active Substance: CERTOLIZUMAB PEGOL
     Route: 065
  188. CERTOLIZUMAB PEGOL [Suspect]
     Active Substance: CERTOLIZUMAB PEGOL
     Route: 065
  189. CERTOLIZUMAB PEGOL [Suspect]
     Active Substance: CERTOLIZUMAB PEGOL
     Indication: Product used for unknown indication
     Route: 065
  190. CETIRIZINE [Suspect]
     Active Substance: CETIRIZINE HYDROCHLORIDE
     Route: 048
  191. CETIRIZINE [Suspect]
     Active Substance: CETIRIZINE HYDROCHLORIDE
     Route: 065
  192. CETIRIZINE [Suspect]
     Active Substance: CETIRIZINE HYDROCHLORIDE
     Route: 065
  193. CETIRIZINE [Suspect]
     Active Substance: CETIRIZINE HYDROCHLORIDE
     Route: 065
  194. CETIRIZINE [Suspect]
     Active Substance: CETIRIZINE HYDROCHLORIDE
     Route: 048
  195. CETIRIZINE [Suspect]
     Active Substance: CETIRIZINE HYDROCHLORIDE
     Route: 048
  196. CETIRIZINE [Suspect]
     Active Substance: CETIRIZINE HYDROCHLORIDE
     Route: 016
  197. CETIRIZINE [Suspect]
     Active Substance: CETIRIZINE HYDROCHLORIDE
     Indication: Rheumatoid arthritis
     Route: 065
  198. CETIRIZINE [Suspect]
     Active Substance: CETIRIZINE HYDROCHLORIDE
     Route: 065
  199. CETIRIZINE [Suspect]
     Active Substance: CETIRIZINE HYDROCHLORIDE
     Route: 065
  200. CETIRIZINE HYDROCHLORIDE [Suspect]
     Active Substance: CETIRIZINE HYDROCHLORIDE
     Route: 048
  201. CETIRIZINE HYDROCHLORIDE [Suspect]
     Active Substance: CETIRIZINE HYDROCHLORIDE
     Indication: Rheumatoid arthritis
     Route: 065
  202. CETIRIZINE HYDROCHLORIDE [Suspect]
     Active Substance: CETIRIZINE HYDROCHLORIDE
     Route: 065
  203. CETIRIZINE HYDROCHLORIDE [Suspect]
     Active Substance: CETIRIZINE HYDROCHLORIDE
     Indication: Rheumatoid arthritis
     Route: 048
  204. CETIRIZINE HYDROCHLORIDE [Suspect]
     Active Substance: CETIRIZINE HYDROCHLORIDE
     Route: 048
  205. CETIRIZINE HYDROCHLORIDE [Suspect]
     Active Substance: CETIRIZINE HYDROCHLORIDE
     Route: 048
  206. CETIRIZINE HYDROCHLORIDE [Suspect]
     Active Substance: CETIRIZINE HYDROCHLORIDE
     Route: 048
  207. CETIRIZINE HYDROCHLORIDE [Suspect]
     Active Substance: CETIRIZINE HYDROCHLORIDE
     Route: 065
  208. CETIRIZINE HYDROCHLORIDE [Suspect]
     Active Substance: CETIRIZINE HYDROCHLORIDE
     Route: 065
  209. CETIRIZINE HYDROCHLORIDE [Suspect]
     Active Substance: CETIRIZINE HYDROCHLORIDE
     Route: 065
  210. CETIRIZINE HYDROCHLORIDE [Suspect]
     Active Substance: CETIRIZINE HYDROCHLORIDE
     Route: 065
  211. CETIRIZINE HYDROCHLORIDE [Suspect]
     Active Substance: CETIRIZINE HYDROCHLORIDE
     Route: 065
  212. CETIRIZINE HYDROCHLORIDE [Suspect]
     Active Substance: CETIRIZINE HYDROCHLORIDE
     Route: 065
  213. CETIRIZINE HYDROCHLORIDE [Suspect]
     Active Substance: CETIRIZINE HYDROCHLORIDE
     Route: 065
  214. CETIRIZINE HYDROCHLORIDE [Suspect]
     Active Substance: CETIRIZINE HYDROCHLORIDE
     Route: 065
  215. CETIRIZINE HYDROCHLORIDE [Suspect]
     Active Substance: CETIRIZINE HYDROCHLORIDE
     Route: 065
  216. CETIRIZINE HYDROCHLORIDE [Suspect]
     Active Substance: CETIRIZINE HYDROCHLORIDE
     Route: 065
  217. CETIRIZINE HYDROCHLORIDE [Suspect]
     Active Substance: CETIRIZINE HYDROCHLORIDE
     Indication: Product used for unknown indication
     Route: 065
  218. CETIRIZINE HYDROCHLORIDE [Suspect]
     Active Substance: CETIRIZINE HYDROCHLORIDE
     Route: 065
  219. CETIRIZINE HYDROCHLORIDE [Suspect]
     Active Substance: CETIRIZINE HYDROCHLORIDE
     Indication: Product used for unknown indication
     Route: 048
  220. CETIRIZINE HYDROCHLORIDE [Suspect]
     Active Substance: CETIRIZINE HYDROCHLORIDE
     Route: 048
  221. CETIRIZINE HYDROCHLORIDE [Suspect]
     Active Substance: CETIRIZINE HYDROCHLORIDE
     Route: 048
  222. CETIRIZINE HYDROCHLORIDE [Suspect]
     Active Substance: CETIRIZINE HYDROCHLORIDE
     Route: 048
  223. CETIRIZINE HYDROCHLORIDE [Suspect]
     Active Substance: CETIRIZINE HYDROCHLORIDE
     Route: 048
  224. CETIRIZINE HYDROCHLORIDE [Suspect]
     Active Substance: CETIRIZINE HYDROCHLORIDE
     Route: 048
  225. CETIRIZINE HYDROCHLORIDE [Suspect]
     Active Substance: CETIRIZINE HYDROCHLORIDE
     Route: 048
  226. CETIRIZINE HYDROCHLORIDE [Suspect]
     Active Substance: CETIRIZINE HYDROCHLORIDE
     Indication: Product used for unknown indication
     Route: 065
  227. CETIRIZINE HYDROCHLORIDE [Suspect]
     Active Substance: CETIRIZINE HYDROCHLORIDE
     Route: 065
  228. CETIRIZINE HYDROCHLORIDE [Suspect]
     Active Substance: CETIRIZINE HYDROCHLORIDE
     Route: 065
  229. CETIRIZINE HYDROCHLORIDE [Suspect]
     Active Substance: CETIRIZINE HYDROCHLORIDE
     Route: 065
  230. CETIRIZINE HYDROCHLORIDE [Suspect]
     Active Substance: CETIRIZINE HYDROCHLORIDE
     Route: 065
  231. CETIRIZINE HYDROCHLORIDE [Suspect]
     Active Substance: CETIRIZINE HYDROCHLORIDE
     Route: 065
  232. CETIRIZINE HYDROCHLORIDE [Suspect]
     Active Substance: CETIRIZINE HYDROCHLORIDE
     Route: 065
  233. CETIRIZINE HYDROCHLORIDE [Suspect]
     Active Substance: CETIRIZINE HYDROCHLORIDE
     Route: 065
  234. CETIRIZINE HYDROCHLORIDE [Suspect]
     Active Substance: CETIRIZINE HYDROCHLORIDE
     Route: 065
  235. CETIRIZINE HYDROCHLORIDE [Suspect]
     Active Substance: CETIRIZINE HYDROCHLORIDE
     Route: 065
  236. CETIRIZINE HYDROCHLORIDE [Suspect]
     Active Substance: CETIRIZINE HYDROCHLORIDE
     Route: 065
  237. CETIRIZINE HYDROCHLORIDE [Suspect]
     Active Substance: CETIRIZINE HYDROCHLORIDE
     Indication: Product used for unknown indication
     Route: 048
  238. CETIRIZINE HYDROCHLORIDE [Suspect]
     Active Substance: CETIRIZINE HYDROCHLORIDE
     Route: 065
  239. CETIRIZINE HYDROCHLORIDE [Suspect]
     Active Substance: CETIRIZINE HYDROCHLORIDE
     Route: 065
  240. CETIRIZINE HYDROCHLORIDE [Suspect]
     Active Substance: CETIRIZINE HYDROCHLORIDE
     Route: 048
  241. CETIRIZINE HYDROCHLORIDE [Suspect]
     Active Substance: CETIRIZINE HYDROCHLORIDE
     Route: 016
  242. CETIRIZINE HYDROCHLORIDE [Suspect]
     Active Substance: CETIRIZINE HYDROCHLORIDE
     Indication: Rheumatoid arthritis
     Route: 065
  243. CETIRIZINE HYDROCHLORIDE [Suspect]
     Active Substance: CETIRIZINE HYDROCHLORIDE
     Route: 065
  244. CETIRIZINE HYDROCHLORIDE [Suspect]
     Active Substance: CETIRIZINE HYDROCHLORIDE
     Route: 065
  245. CETIRIZINE HYDROCHLORIDE [Suspect]
     Active Substance: CETIRIZINE HYDROCHLORIDE
     Route: 065
  246. CETIRIZINE HYDROCHLORIDE [Suspect]
     Active Substance: CETIRIZINE HYDROCHLORIDE
     Route: 065
  247. CETIRIZINE HYDROCHLORIDE [Suspect]
     Active Substance: CETIRIZINE HYDROCHLORIDE
     Route: 065
  248. CETIRIZINE HYDROCHLORIDE [Suspect]
     Active Substance: CETIRIZINE HYDROCHLORIDE
     Route: 065
  249. CETIRIZINE HYDROCHLORIDE [Suspect]
     Active Substance: CETIRIZINE HYDROCHLORIDE
     Route: 065
  250. CETIRIZINE HYDROCHLORIDE [Suspect]
     Active Substance: CETIRIZINE HYDROCHLORIDE
     Route: 065
  251. CETIRIZINE HYDROCHLORIDE [Suspect]
     Active Substance: CETIRIZINE HYDROCHLORIDE
     Indication: Product used for unknown indication
     Route: 005
  252. CETIRIZINE HYDROCHLORIDE [Suspect]
     Active Substance: CETIRIZINE HYDROCHLORIDE
     Indication: Rheumatoid arthritis
     Route: 065
  253. CETIRIZINE HYDROCHLORIDE [Suspect]
     Active Substance: CETIRIZINE HYDROCHLORIDE
     Route: 065
  254. CETIRIZINE HYDROCHLORIDE [Suspect]
     Active Substance: CETIRIZINE HYDROCHLORIDE
     Indication: Rheumatoid arthritis
     Route: 065
  255. CHLORHEXIDINE GLUCONATE [Suspect]
     Active Substance: CHLORHEXIDINE GLUCONATE
     Route: 061
  256. CHLORHEXIDINE GLUCONATE [Suspect]
     Active Substance: CHLORHEXIDINE GLUCONATE
     Indication: Product used for unknown indication
     Route: 065
  257. CHLORHEXIDINE GLUCONATE [Suspect]
     Active Substance: CHLORHEXIDINE GLUCONATE
     Route: 065
  258. CHLORHEXIDINE GLUCONATE [Suspect]
     Active Substance: CHLORHEXIDINE GLUCONATE
     Route: 065
  259. CHOLECALCIFEROL [Suspect]
     Active Substance: CHOLECALCIFEROL
     Indication: Product used for unknown indication
     Route: 065
  260. CHOLECALCIFEROL [Suspect]
     Active Substance: CHOLECALCIFEROL
     Route: 065
  261. CIMZIA [Suspect]
     Active Substance: CERTOLIZUMAB PEGOL
     Route: 058
  262. CIMZIA [Suspect]
     Active Substance: CERTOLIZUMAB PEGOL
     Route: 058
  263. CIMZIA [Suspect]
     Active Substance: CERTOLIZUMAB PEGOL
     Route: 058
  264. CIMZIA [Suspect]
     Active Substance: CERTOLIZUMAB PEGOL
     Route: 058
  265. CIMZIA [Suspect]
     Active Substance: CERTOLIZUMAB PEGOL
     Route: 058
  266. CIMZIA [Suspect]
     Active Substance: CERTOLIZUMAB PEGOL
     Route: 058
  267. CIMZIA [Suspect]
     Active Substance: CERTOLIZUMAB PEGOL
     Route: 058
  268. CIMZIA [Suspect]
     Active Substance: CERTOLIZUMAB PEGOL
     Route: 005
  269. CIMZIA [Suspect]
     Active Substance: CERTOLIZUMAB PEGOL
     Route: 005
  270. CIMZIA [Suspect]
     Active Substance: CERTOLIZUMAB PEGOL
     Indication: Rheumatoid arthritis
     Route: 065
  271. CIMZIA [Suspect]
     Active Substance: CERTOLIZUMAB PEGOL
     Route: 065
  272. CIMZIA [Suspect]
     Active Substance: CERTOLIZUMAB PEGOL
     Route: 065
  273. CIMZIA [Suspect]
     Active Substance: CERTOLIZUMAB PEGOL
     Route: 065
  274. CIMZIA [Suspect]
     Active Substance: CERTOLIZUMAB PEGOL
     Route: 065
  275. CIMZIA [Suspect]
     Active Substance: CERTOLIZUMAB PEGOL
     Route: 065
  276. CORTISONE ACETATE [Suspect]
     Active Substance: CORTISONE ACETATE
     Route: 048
  277. CORTISONE ACETATE [Suspect]
     Active Substance: CORTISONE ACETATE
     Route: 048
  278. CORTISONE ACETATE [Suspect]
     Active Substance: CORTISONE ACETATE
     Route: 048
  279. CORTISONE ACETATE [Suspect]
     Active Substance: CORTISONE ACETATE
     Route: 048
  280. CORTISONE ACETATE [Suspect]
     Active Substance: CORTISONE ACETATE
     Route: 061
  281. CORTISONE ACETATE [Suspect]
     Active Substance: CORTISONE ACETATE
     Route: 065
  282. CORTISONE ACETATE [Suspect]
     Active Substance: CORTISONE ACETATE
     Route: 065
  283. CORTISONE ACETATE [Suspect]
     Active Substance: CORTISONE ACETATE
     Route: 065
  284. CORTISONE ACETATE [Suspect]
     Active Substance: CORTISONE ACETATE
     Route: 065
  285. CORTISONE ACETATE [Suspect]
     Active Substance: CORTISONE ACETATE
     Route: 065
  286. CORTISONE ACETATE [Suspect]
     Active Substance: CORTISONE ACETATE
     Route: 065
  287. CORTISONE ACETATE [Suspect]
     Active Substance: CORTISONE ACETATE
     Route: 061
  288. CORTISONE ACETATE [Suspect]
     Active Substance: CORTISONE ACETATE
     Indication: Rheumatoid arthritis
     Route: 065
  289. CORTISONE ACETATE [Suspect]
     Active Substance: CORTISONE ACETATE
     Route: 065
  290. CORTISONE ACETATE [Suspect]
     Active Substance: CORTISONE ACETATE
     Route: 065
  291. CORTISONE ACETATE [Suspect]
     Active Substance: CORTISONE ACETATE
     Route: 065
  292. CORTISONE ACETATE [Suspect]
     Active Substance: CORTISONE ACETATE
     Route: 065
  293. COSENTYX [Suspect]
     Active Substance: SECUKINUMAB
     Route: 005
  294. COSENTYX [Suspect]
     Active Substance: SECUKINUMAB
     Route: 005
  295. COSENTYX [Suspect]
     Active Substance: SECUKINUMAB
     Indication: Psoriatic arthropathy
     Route: 065
  296. COSENTYX [Suspect]
     Active Substance: SECUKINUMAB
     Indication: Rheumatoid arthritis
     Route: 065
  297. COSENTYX [Suspect]
     Active Substance: SECUKINUMAB
     Route: 065
  298. COSENTYX [Suspect]
     Active Substance: SECUKINUMAB
     Route: 065
  299. COSENTYX [Suspect]
     Active Substance: SECUKINUMAB
     Route: 065
  300. COSENTYX [Suspect]
     Active Substance: SECUKINUMAB
     Route: 065
  301. COSENTYX [Suspect]
     Active Substance: SECUKINUMAB
     Route: 065
  302. DESOXIMETASONE [Suspect]
     Active Substance: DESOXIMETASONE
     Route: 048
  303. DESOXIMETASONE [Suspect]
     Active Substance: DESOXIMETASONE
     Route: 065
  304. DESOXIMETASONE [Suspect]
     Active Substance: DESOXIMETASONE
     Route: 048
  305. DESOXIMETASONE [Suspect]
     Active Substance: DESOXIMETASONE
     Route: 048
  306. DESOXIMETASONE [Suspect]
     Active Substance: DESOXIMETASONE
     Route: 048
  307. DESOXIMETASONE [Suspect]
     Active Substance: DESOXIMETASONE
     Route: 048
  308. DESOXIMETASONE [Suspect]
     Active Substance: DESOXIMETASONE
     Route: 048
  309. DESOXIMETASONE [Suspect]
     Active Substance: DESOXIMETASONE
     Route: 048
  310. DESOXIMETASONE [Suspect]
     Active Substance: DESOXIMETASONE
     Route: 048
  311. DESOXIMETASONE [Suspect]
     Active Substance: DESOXIMETASONE
     Route: 048
  312. DESOXIMETASONE [Suspect]
     Active Substance: DESOXIMETASONE
     Route: 048
  313. DESOXIMETASONE [Suspect]
     Active Substance: DESOXIMETASONE
     Route: 048
  314. DESOXIMETASONE [Suspect]
     Active Substance: DESOXIMETASONE
     Route: 048
  315. DESOXIMETASONE [Suspect]
     Active Substance: DESOXIMETASONE
     Route: 048
  316. DESOXIMETASONE [Suspect]
     Active Substance: DESOXIMETASONE
     Route: 065
  317. DESOXIMETASONE [Suspect]
     Active Substance: DESOXIMETASONE
     Route: 065
  318. DESOXIMETASONE [Suspect]
     Active Substance: DESOXIMETASONE
     Route: 065
  319. DESOXIMETASONE [Suspect]
     Active Substance: DESOXIMETASONE
     Route: 065
  320. DESOXIMETASONE [Suspect]
     Active Substance: DESOXIMETASONE
     Route: 065
  321. DESOXIMETASONE [Suspect]
     Active Substance: DESOXIMETASONE
     Route: 065
  322. DESOXIMETASONE [Suspect]
     Active Substance: DESOXIMETASONE
     Route: 065
  323. DESOXIMETASONE [Suspect]
     Active Substance: DESOXIMETASONE
     Route: 003
  324. DESOXIMETASONE [Suspect]
     Active Substance: DESOXIMETASONE
     Indication: Product used for unknown indication
     Route: 048
  325. DESOXIMETASONE [Suspect]
     Active Substance: DESOXIMETASONE
     Route: 048
  326. DESOXIMETASONE [Suspect]
     Active Substance: DESOXIMETASONE
     Route: 058
  327. DESOXIMETASONE [Suspect]
     Active Substance: DESOXIMETASONE
     Route: 058
  328. DESOXIMETASONE [Suspect]
     Active Substance: DESOXIMETASONE
     Route: 058
  329. DESOXIMETASONE [Suspect]
     Active Substance: DESOXIMETASONE
     Indication: Product used for unknown indication
     Route: 048
  330. DESOXIMETASONE [Suspect]
     Active Substance: DESOXIMETASONE
     Route: 048
  331. DESOXIMETASONE [Suspect]
     Active Substance: DESOXIMETASONE
     Indication: Rheumatoid arthritis
     Route: 065
  332. DESOXIMETASONE [Suspect]
     Active Substance: DESOXIMETASONE
     Route: 003
  333. DESOXIMETASONE [Suspect]
     Active Substance: DESOXIMETASONE
     Route: 003
  334. DESOXIMETASONE [Suspect]
     Active Substance: DESOXIMETASONE
     Route: 003
  335. DESOXIMETASONE [Suspect]
     Active Substance: DESOXIMETASONE
     Route: 003
  336. DESOXIMETASONE [Suspect]
     Active Substance: DESOXIMETASONE
     Route: 048
  337. DESOXIMETASONE [Suspect]
     Active Substance: DESOXIMETASONE
     Route: 048
  338. DESOXIMETASONE [Suspect]
     Active Substance: DESOXIMETASONE
     Route: 048
  339. DESOXIMETASONE [Suspect]
     Active Substance: DESOXIMETASONE
     Route: 048
  340. DESOXIMETASONE [Suspect]
     Active Substance: DESOXIMETASONE
     Route: 048
  341. DESOXIMETASONE [Suspect]
     Active Substance: DESOXIMETASONE
     Route: 048
  342. DESOXIMETASONE [Suspect]
     Active Substance: DESOXIMETASONE
     Route: 048
  343. DESOXIMETASONE [Suspect]
     Active Substance: DESOXIMETASONE
     Route: 048
  344. DESOXIMETASONE [Suspect]
     Active Substance: DESOXIMETASONE
     Route: 048
  345. DESOXIMETASONE [Suspect]
     Active Substance: DESOXIMETASONE
     Route: 048
  346. DESOXIMETASONE [Suspect]
     Active Substance: DESOXIMETASONE
     Route: 048
  347. DESOXIMETASONE [Suspect]
     Active Substance: DESOXIMETASONE
     Route: 048
  348. DESOXIMETASONE [Suspect]
     Active Substance: DESOXIMETASONE
     Route: 048
  349. DESOXIMETASONE [Suspect]
     Active Substance: DESOXIMETASONE
     Route: 058
  350. DESOXIMETASONE [Suspect]
     Active Substance: DESOXIMETASONE
     Route: 058
  351. DESOXIMETASONE [Suspect]
     Active Substance: DESOXIMETASONE
     Route: 058
  352. DESOXIMETASONE [Suspect]
     Active Substance: DESOXIMETASONE
     Route: 058
  353. DESOXIMETASONE [Suspect]
     Active Substance: DESOXIMETASONE
     Route: 058
  354. DESOXIMETASONE [Suspect]
     Active Substance: DESOXIMETASONE
     Route: 058
  355. DESOXIMETASONE [Suspect]
     Active Substance: DESOXIMETASONE
     Route: 058
  356. DESOXIMETASONE [Suspect]
     Active Substance: DESOXIMETASONE
     Route: 058
  357. DESOXIMETASONE [Suspect]
     Active Substance: DESOXIMETASONE
     Route: 058
  358. DESOXIMETASONE [Suspect]
     Active Substance: DESOXIMETASONE
     Indication: Rheumatoid arthritis
     Route: 065
  359. DESOXIMETASONE [Suspect]
     Active Substance: DESOXIMETASONE
     Route: 065
  360. DESOXIMETASONE [Suspect]
     Active Substance: DESOXIMETASONE
     Route: 065
  361. DESOXIMETASONE [Suspect]
     Active Substance: DESOXIMETASONE
     Route: 065
  362. DESOXIMETASONE [Suspect]
     Active Substance: DESOXIMETASONE
     Route: 065
  363. DESOXIMETASONE [Suspect]
     Active Substance: DESOXIMETASONE
     Indication: Rheumatoid arthritis
     Route: 065
  364. DICLOFENAC [Suspect]
     Active Substance: DICLOFENAC
     Indication: Product used for unknown indication
     Route: 065
  365. DICLOFENAC DIETHYLAMINE [Suspect]
     Active Substance: DICLOFENAC DIETHYLAMINE
     Route: 065
  366. DICLOFENAC DIETHYLAMINE [Suspect]
     Active Substance: DICLOFENAC DIETHYLAMINE
     Indication: Product used for unknown indication
     Route: 065
  367. DICLOFENAC POTASSIUM [Suspect]
     Active Substance: DICLOFENAC POTASSIUM
     Route: 065
  368. DICLOFENAC POTASSIUM [Suspect]
     Active Substance: DICLOFENAC POTASSIUM
     Route: 065
  369. DICLOFENAC POTASSIUM [Suspect]
     Active Substance: DICLOFENAC POTASSIUM
     Route: 065
  370. DICLOFENAC POTASSIUM [Suspect]
     Active Substance: DICLOFENAC POTASSIUM
     Indication: Product used for unknown indication
     Route: 065
  371. DICLOFENAC SODIUM [Suspect]
     Active Substance: DICLOFENAC SODIUM
     Indication: Product used for unknown indication
     Route: 058
  372. DICLOFENAC SODIUM [Suspect]
     Active Substance: DICLOFENAC SODIUM
     Route: 065
  373. DICLOFENAC SODIUM [Suspect]
     Active Substance: DICLOFENAC SODIUM
     Route: 065
  374. DICLOFENAC SODIUM [Suspect]
     Active Substance: DICLOFENAC SODIUM
     Route: 065
  375. DICLOFENAC SODIUM [Suspect]
     Active Substance: DICLOFENAC SODIUM
     Route: 058
  376. DICLOFENAC SODIUM [Suspect]
     Active Substance: DICLOFENAC SODIUM
     Route: 058
  377. DICLOFENAC SODIUM [Suspect]
     Active Substance: DICLOFENAC SODIUM
     Route: 065
  378. DICLOFENAC SODIUM [Suspect]
     Active Substance: DICLOFENAC SODIUM
     Route: 065
  379. DICLOFENAC SODIUM [Suspect]
     Active Substance: DICLOFENAC SODIUM
     Route: 065
  380. DICLOFENAC SODIUM [Suspect]
     Active Substance: DICLOFENAC SODIUM
     Route: 065
  381. DICLOFENAC SODIUM [Suspect]
     Active Substance: DICLOFENAC SODIUM
     Route: 065
  382. DOMPERIDONE MALEATE [Suspect]
     Active Substance: DOMPERIDONE MALEATE
     Indication: Product used for unknown indication
     Route: 065
  383. DOMPERIDONE MALEATE [Suspect]
     Active Substance: DOMPERIDONE MALEATE
     Route: 065
  384. DOMPERIDONE MALEATE [Suspect]
     Active Substance: DOMPERIDONE MALEATE
     Route: 065
  385. ENBREL [Suspect]
     Active Substance: ETANERCEPT
     Route: 065
  386. ENBREL [Suspect]
     Active Substance: ETANERCEPT
     Route: 065
  387. ENBREL [Suspect]
     Active Substance: ETANERCEPT
     Route: 065
  388. ENBREL [Suspect]
     Active Substance: ETANERCEPT
     Route: 058
  389. ENBREL [Suspect]
     Active Substance: ETANERCEPT
     Route: 058
  390. ENBREL [Suspect]
     Active Substance: ETANERCEPT
     Route: 058
  391. ENBREL [Suspect]
     Active Substance: ETANERCEPT
     Route: 065
  392. ENBREL [Suspect]
     Active Substance: ETANERCEPT
     Route: 058
  393. ENBREL [Suspect]
     Active Substance: ETANERCEPT
     Route: 058
  394. ENBREL [Suspect]
     Active Substance: ETANERCEPT
     Route: 058
  395. ENBREL [Suspect]
     Active Substance: ETANERCEPT
     Route: 058
  396. ENBREL [Suspect]
     Active Substance: ETANERCEPT
     Route: 058
  397. ENBREL [Suspect]
     Active Substance: ETANERCEPT
     Route: 065
  398. ENBREL [Suspect]
     Active Substance: ETANERCEPT
     Route: 058
  399. ENBREL [Suspect]
     Active Substance: ETANERCEPT
     Route: 058
  400. ENBREL [Suspect]
     Active Substance: ETANERCEPT
     Route: 058
  401. ENBREL [Suspect]
     Active Substance: ETANERCEPT
     Route: 058
  402. ENBREL [Suspect]
     Active Substance: ETANERCEPT
     Indication: Rheumatoid arthritis
     Route: 065
  403. ENBREL [Suspect]
     Active Substance: ETANERCEPT
     Route: 065
  404. ENBREL [Suspect]
     Active Substance: ETANERCEPT
     Route: 065
  405. ENBREL [Suspect]
     Active Substance: ETANERCEPT
     Route: 065
  406. ENBREL [Suspect]
     Active Substance: ETANERCEPT
     Route: 065
  407. ENBREL [Suspect]
     Active Substance: ETANERCEPT
     Route: 065
  408. ERELZI [Suspect]
     Active Substance: ETANERCEPT-SZZS
     Indication: Product used for unknown indication
     Route: 065
  409. ERELZI [Suspect]
     Active Substance: ETANERCEPT-SZZS
     Route: 065
  410. ERELZI [Suspect]
     Active Substance: ETANERCEPT-SZZS
     Route: 065
  411. ERELZI [Suspect]
     Active Substance: ETANERCEPT-SZZS
     Route: 058
  412. ERELZI [Suspect]
     Active Substance: ETANERCEPT-SZZS
     Indication: Product used for unknown indication
     Route: 065
  413. ERELZI [Suspect]
     Active Substance: ETANERCEPT-SZZS
     Indication: Rheumatoid arthritis
     Route: 065
  414. ERELZI [Suspect]
     Active Substance: ETANERCEPT-SZZS
     Indication: Rheumatoid arthritis
     Route: 058
  415. ERGOCALCIFEROL [Suspect]
     Active Substance: ERGOCALCIFEROL
     Route: 065
  416. ERGOCALCIFEROL [Suspect]
     Active Substance: ERGOCALCIFEROL
     Indication: Product used for unknown indication
     Route: 065
  417. FLUMETHASONE [Suspect]
     Active Substance: FLUMETHASONE
     Indication: Product used for unknown indication
     Route: 065
  418. FLUMETHASONE [Suspect]
     Active Substance: FLUMETHASONE
     Route: 065
  419. FLUMETHASONE PIVALATE [Suspect]
     Active Substance: FLUMETHASONE PIVALATE
     Route: 048
  420. FLUMETHASONE PIVALATE [Suspect]
     Active Substance: FLUMETHASONE PIVALATE
     Route: 065
  421. FLUMETHASONE PIVALATE [Suspect]
     Active Substance: FLUMETHASONE PIVALATE
     Route: 048
  422. FLUMETHASONE PIVALATE [Suspect]
     Active Substance: FLUMETHASONE PIVALATE
     Route: 048
  423. FLUMETHASONE PIVALATE [Suspect]
     Active Substance: FLUMETHASONE PIVALATE
     Route: 065
  424. FLUMETHASONE PIVALATE [Suspect]
     Active Substance: FLUMETHASONE PIVALATE
     Route: 048
  425. FLUMETHASONE PIVALATE [Suspect]
     Active Substance: FLUMETHASONE PIVALATE
     Route: 065
  426. FLUMETHASONE PIVALATE [Suspect]
     Active Substance: FLUMETHASONE PIVALATE
     Route: 003
  427. FLUMETHASONE PIVALATE [Suspect]
     Active Substance: FLUMETHASONE PIVALATE
     Route: 003
  428. FLUMETHASONE PIVALATE [Suspect]
     Active Substance: FLUMETHASONE PIVALATE
     Route: 003
  429. FLUMETHASONE PIVALATE [Suspect]
     Active Substance: FLUMETHASONE PIVALATE
     Route: 048
  430. FLUMETHASONE PIVALATE [Suspect]
     Active Substance: FLUMETHASONE PIVALATE
     Route: 003
  431. FLUMETHASONE PIVALATE [Suspect]
     Active Substance: FLUMETHASONE PIVALATE
     Indication: Product used for unknown indication
     Route: 065
  432. FLUMETHASONE PIVALATE [Suspect]
     Active Substance: FLUMETHASONE PIVALATE
     Route: 065
  433. FLUMETHASONE PIVALATE [Suspect]
     Active Substance: FLUMETHASONE PIVALATE
     Route: 065
  434. FLUMETHASONE PIVALATE [Suspect]
     Active Substance: FLUMETHASONE PIVALATE
     Indication: Product used for unknown indication
     Route: 065
  435. FOLIC ACID [Suspect]
     Active Substance: FOLIC ACID
     Route: 048
  436. FOLIC ACID [Suspect]
     Active Substance: FOLIC ACID
     Route: 065
  437. FOLIC ACID [Suspect]
     Active Substance: FOLIC ACID
     Route: 058
  438. FOLIC ACID [Suspect]
     Active Substance: FOLIC ACID
     Route: 065
  439. FOLIC ACID [Suspect]
     Active Substance: FOLIC ACID
     Route: 065
  440. FOLIC ACID [Suspect]
     Active Substance: FOLIC ACID
     Route: 048
  441. FOLIC ACID [Suspect]
     Active Substance: FOLIC ACID
     Route: 048
  442. FOLIC ACID [Suspect]
     Active Substance: FOLIC ACID
     Route: 065
  443. FOLIC ACID [Suspect]
     Active Substance: FOLIC ACID
     Route: 048
  444. FOLIC ACID [Suspect]
     Active Substance: FOLIC ACID
     Route: 048
  445. FOLIC ACID [Suspect]
     Active Substance: FOLIC ACID
     Route: 065
  446. FOLIC ACID [Suspect]
     Active Substance: FOLIC ACID
     Route: 048
  447. FOLIC ACID [Suspect]
     Active Substance: FOLIC ACID
     Route: 065
  448. FOLIC ACID [Suspect]
     Active Substance: FOLIC ACID
     Route: 065
  449. FOLIC ACID [Suspect]
     Active Substance: FOLIC ACID
     Route: 065
  450. FOLIC ACID [Suspect]
     Active Substance: FOLIC ACID
     Route: 048
  451. FOLIC ACID [Suspect]
     Active Substance: FOLIC ACID
     Route: 048
  452. FOLIC ACID [Suspect]
     Active Substance: FOLIC ACID
     Route: 065
  453. FOLIC ACID [Suspect]
     Active Substance: FOLIC ACID
     Indication: Product used for unknown indication
     Route: 065
  454. FOLIC ACID [Suspect]
     Active Substance: FOLIC ACID
     Route: 065
  455. FOSAMAX [Suspect]
     Active Substance: ALENDRONATE SODIUM
     Route: 005
  456. FOSAMAX [Suspect]
     Active Substance: ALENDRONATE SODIUM
     Route: 005
  457. FOSAMAX [Suspect]
     Active Substance: ALENDRONATE SODIUM
     Route: 016
  458. FOSAMAX [Suspect]
     Active Substance: ALENDRONATE SODIUM
     Route: 016
  459. FOSAMAX [Suspect]
     Active Substance: ALENDRONATE SODIUM
     Route: 048
  460. FOSAMAX [Suspect]
     Active Substance: ALENDRONATE SODIUM
     Route: 048
  461. FOSAMAX [Suspect]
     Active Substance: ALENDRONATE SODIUM
     Route: 048
  462. FOSAMAX [Suspect]
     Active Substance: ALENDRONATE SODIUM
     Route: 058
  463. FOSAMAX [Suspect]
     Active Substance: ALENDRONATE SODIUM
     Route: 058
  464. FOSAMAX [Suspect]
     Active Substance: ALENDRONATE SODIUM
     Route: 058
  465. FOSAMAX [Suspect]
     Active Substance: ALENDRONATE SODIUM
     Indication: Product used for unknown indication
     Route: 065
  466. FOSAMAX [Suspect]
     Active Substance: ALENDRONATE SODIUM
     Route: 065
  467. FOSAMAX [Suspect]
     Active Substance: ALENDRONATE SODIUM
     Route: 065
  468. GOLD [Suspect]
     Active Substance: GOLD
     Route: 065
  469. GOLD [Suspect]
     Active Substance: GOLD
     Route: 065
  470. GOLD [Suspect]
     Active Substance: GOLD
     Indication: Product used for unknown indication
     Route: 065
  471. HAIR KERATIN AMINO ACIDS GOLD COMPLEX [Suspect]
     Active Substance: HAIR KERATIN AMINO ACIDS GOLD COMPLEX
     Indication: Product used for unknown indication
     Route: 065
  472. HAIR KERATIN AMINO ACIDS GOLD COMPLEX [Suspect]
     Active Substance: HAIR KERATIN AMINO ACIDS GOLD COMPLEX
     Route: 065
  473. GOLD SODIUM THIOMALATE [Suspect]
     Active Substance: GOLD SODIUM THIOMALATE
     Indication: Product used for unknown indication
     Route: 065
  474. GOLD SODIUM THIOMALATE [Suspect]
     Active Substance: GOLD SODIUM THIOMALATE
     Route: 065
  475. GOLD SODIUM THIOMALATE [Suspect]
     Active Substance: GOLD SODIUM THIOMALATE
     Route: 065
  476. GOLIMUMAB [Suspect]
     Active Substance: GOLIMUMAB
     Indication: Rheumatoid arthritis
     Route: 058
  477. GOLIMUMAB [Suspect]
     Active Substance: GOLIMUMAB
     Route: 058
  478. GOLIMUMAB [Suspect]
     Active Substance: GOLIMUMAB
     Route: 058
  479. GOLIMUMAB [Suspect]
     Active Substance: GOLIMUMAB
     Route: 058
  480. GOLIMUMAB [Suspect]
     Active Substance: GOLIMUMAB
     Route: 058
  481. GOLIMUMAB [Suspect]
     Active Substance: GOLIMUMAB
     Indication: Prostatic specific antigen
     Route: 065
  482. GOLIMUMAB [Suspect]
     Active Substance: GOLIMUMAB
     Route: 065
  483. GOLIMUMAB [Suspect]
     Active Substance: GOLIMUMAB
     Route: 065
  484. GOLIMUMAB [Suspect]
     Active Substance: GOLIMUMAB
     Route: 065
  485. GOLIMUMAB [Suspect]
     Active Substance: GOLIMUMAB
     Route: 065
  486. GOLIMUMAB [Suspect]
     Active Substance: GOLIMUMAB
     Route: 065
  487. GOLIMUMAB [Suspect]
     Active Substance: GOLIMUMAB
     Route: 065
  488. HUMIRA [Suspect]
     Active Substance: ADALIMUMAB
     Route: 058
  489. HUMIRA [Suspect]
     Active Substance: ADALIMUMAB
     Route: 058
  490. HUMIRA [Suspect]
     Active Substance: ADALIMUMAB
     Route: 058
  491. HUMIRA [Suspect]
     Active Substance: ADALIMUMAB
     Route: 058
  492. HUMIRA [Suspect]
     Active Substance: ADALIMUMAB
     Route: 058
  493. HUMIRA [Suspect]
     Active Substance: ADALIMUMAB
     Route: 058
  494. HUMIRA [Suspect]
     Active Substance: ADALIMUMAB
     Route: 058
  495. HUMIRA [Suspect]
     Active Substance: ADALIMUMAB
     Route: 058
  496. HUMIRA [Suspect]
     Active Substance: ADALIMUMAB
     Route: 058
  497. HUMIRA [Suspect]
     Active Substance: ADALIMUMAB
     Route: 058
  498. HUMIRA [Suspect]
     Active Substance: ADALIMUMAB
     Route: 057
  499. HUMIRA [Suspect]
     Active Substance: ADALIMUMAB
     Route: 057
  500. HUMIRA [Suspect]
     Active Substance: ADALIMUMAB
     Route: 057
  501. HUMIRA [Suspect]
     Active Substance: ADALIMUMAB
     Indication: Rheumatoid arthritis
     Route: 058
  502. HUMIRA [Suspect]
     Active Substance: ADALIMUMAB
     Route: 058
  503. HUMIRA [Suspect]
     Active Substance: ADALIMUMAB
     Route: 058
  504. HUMIRA [Suspect]
     Active Substance: ADALIMUMAB
     Route: 058
  505. HUMIRA [Suspect]
     Active Substance: ADALIMUMAB
     Route: 065
  506. HUMIRA [Suspect]
     Active Substance: ADALIMUMAB
     Route: 065
  507. HUMIRA [Suspect]
     Active Substance: ADALIMUMAB
     Route: 065
  508. HUMIRA [Suspect]
     Active Substance: ADALIMUMAB
     Route: 065
  509. HYDROCORTISONE [Suspect]
     Active Substance: HYDROCORTISONE
     Indication: Product used for unknown indication
     Route: 065
  510. HYDROCORTISONE [Suspect]
     Active Substance: HYDROCORTISONE
     Route: 065
  511. HYDROCORTISONE [Suspect]
     Active Substance: HYDROCORTISONE
     Route: 065
  512. HYDROCORTISONE PROBUTATE [Suspect]
     Active Substance: HYDROCORTISONE PROBUTATE
     Indication: Product used for unknown indication
     Route: 065
  513. HYDROCORTISONE ACETATE [Suspect]
     Active Substance: HYDROCORTISONE ACETATE
     Indication: Product used for unknown indication
     Route: 065
  514. HYDROCORTISONE BUTYRATE [Suspect]
     Active Substance: HYDROCORTISONE BUTYRATE
     Indication: Product used for unknown indication
     Route: 065
  515. HYDROXYCHLOROQUINE [Suspect]
     Active Substance: HYDROXYCHLOROQUINE
     Route: 065
  516. HYDROXYCHLOROQUINE [Suspect]
     Active Substance: HYDROXYCHLOROQUINE
     Route: 065
  517. HYDROXYCHLOROQUINE [Suspect]
     Active Substance: HYDROXYCHLOROQUINE
     Route: 065
  518. HYDROXYCHLOROQUINE [Suspect]
     Active Substance: HYDROXYCHLOROQUINE
     Route: 065
  519. HYDROXYCHLOROQUINE [Suspect]
     Active Substance: HYDROXYCHLOROQUINE
     Route: 065
  520. HYDROXYCHLOROQUINE [Suspect]
     Active Substance: HYDROXYCHLOROQUINE
     Route: 048
  521. HYDROXYCHLOROQUINE [Suspect]
     Active Substance: HYDROXYCHLOROQUINE
     Route: 065
  522. HYDROXYCHLOROQUINE [Suspect]
     Active Substance: HYDROXYCHLOROQUINE
     Route: 065
  523. HYDROXYCHLOROQUINE [Suspect]
     Active Substance: HYDROXYCHLOROQUINE
     Route: 048
  524. HYDROXYCHLOROQUINE [Suspect]
     Active Substance: HYDROXYCHLOROQUINE
     Route: 048
  525. HYDROXYCHLOROQUINE [Suspect]
     Active Substance: HYDROXYCHLOROQUINE
     Route: 048
  526. HYDROXYCHLOROQUINE [Suspect]
     Active Substance: HYDROXYCHLOROQUINE
     Route: 048
  527. HYDROXYCHLOROQUINE [Suspect]
     Active Substance: HYDROXYCHLOROQUINE
     Route: 048
  528. HYDROXYCHLOROQUINE [Suspect]
     Active Substance: HYDROXYCHLOROQUINE
     Route: 048
  529. HYDROXYCHLOROQUINE [Suspect]
     Active Substance: HYDROXYCHLOROQUINE
     Indication: Product used for unknown indication
     Route: 065
  530. HYDROXYCHLOROQUINE [Suspect]
     Active Substance: HYDROXYCHLOROQUINE
     Route: 065
  531. HYDROXYCHLOROQUINE [Suspect]
     Active Substance: HYDROXYCHLOROQUINE
     Route: 048
  532. HYDROXYCHLOROQUINE [Suspect]
     Active Substance: HYDROXYCHLOROQUINE
     Route: 048
  533. HYDROXYCHLOROQUINE [Suspect]
     Active Substance: HYDROXYCHLOROQUINE
     Route: 048
  534. HYDROXYCHLOROQUINE [Suspect]
     Active Substance: HYDROXYCHLOROQUINE
     Route: 048
  535. HYDROXYCHLOROQUINE [Suspect]
     Active Substance: HYDROXYCHLOROQUINE
     Route: 048
  536. HYDROXYCHLOROQUINE [Suspect]
     Active Substance: HYDROXYCHLOROQUINE
     Route: 065
  537. HYDROXYCHLOROQUINE [Suspect]
     Active Substance: HYDROXYCHLOROQUINE
     Route: 065
  538. HYDROXYCHLOROQUINE [Suspect]
     Active Substance: HYDROXYCHLOROQUINE
     Route: 065
  539. HYDROXYCHLOROQUINE [Suspect]
     Active Substance: HYDROXYCHLOROQUINE
     Route: 005
  540. HYDROXYCHLOROQUINE [Suspect]
     Active Substance: HYDROXYCHLOROQUINE
     Route: 016
  541. HYDROXYCHLOROQUINE [Suspect]
     Active Substance: HYDROXYCHLOROQUINE
     Route: 048
  542. HYDROXYCHLOROQUINE [Suspect]
     Active Substance: HYDROXYCHLOROQUINE
     Route: 048
  543. HYDROXYCHLOROQUINE [Suspect]
     Active Substance: HYDROXYCHLOROQUINE
     Route: 048
  544. HYDROXYCHLOROQUINE [Suspect]
     Active Substance: HYDROXYCHLOROQUINE
     Route: 048
  545. HYDROXYCHLOROQUINE [Suspect]
     Active Substance: HYDROXYCHLOROQUINE
     Route: 048
  546. HYDROXYCHLOROQUINE [Suspect]
     Active Substance: HYDROXYCHLOROQUINE
     Route: 058
  547. HYDROXYCHLOROQUINE [Suspect]
     Active Substance: HYDROXYCHLOROQUINE
     Route: 058
  548. HYDROXYCHLOROQUINE [Suspect]
     Active Substance: HYDROXYCHLOROQUINE
     Route: 065
  549. HYDROXYCHLOROQUINE [Suspect]
     Active Substance: HYDROXYCHLOROQUINE
     Route: 065
  550. HYDROXYCHLOROQUINE [Suspect]
     Active Substance: HYDROXYCHLOROQUINE
     Route: 065
  551. HYDROXYCHLOROQUINE [Suspect]
     Active Substance: HYDROXYCHLOROQUINE
     Route: 065
  552. HYDROXYCHLOROQUINE [Suspect]
     Active Substance: HYDROXYCHLOROQUINE
     Route: 065
  553. HYDROXYCHLOROQUINE [Suspect]
     Active Substance: HYDROXYCHLOROQUINE
     Route: 065
  554. HYDROXYCHLOROQUINE [Suspect]
     Active Substance: HYDROXYCHLOROQUINE
     Route: 065
  555. HYDROXYCHLOROQUINE [Suspect]
     Active Substance: HYDROXYCHLOROQUINE
     Route: 005
  556. HYDROXYCHLOROQUINE [Suspect]
     Active Substance: HYDROXYCHLOROQUINE
     Route: 005
  557. HYDROXYCHLOROQUINE [Suspect]
     Active Substance: HYDROXYCHLOROQUINE
     Route: 016
  558. HYDROXYCHLOROQUINE [Suspect]
     Active Substance: HYDROXYCHLOROQUINE
     Route: 048
  559. HYDROXYCHLOROQUINE [Suspect]
     Active Substance: HYDROXYCHLOROQUINE
     Route: 048
  560. HYDROXYCHLOROQUINE [Suspect]
     Active Substance: HYDROXYCHLOROQUINE
     Route: 058
  561. HYDROXYCHLOROQUINE [Suspect]
     Active Substance: HYDROXYCHLOROQUINE
     Indication: Product used for unknown indication
     Route: 065
  562. HYDROXYCHLOROQUINE [Suspect]
     Active Substance: HYDROXYCHLOROQUINE
     Route: 065
  563. HYDROXYCHLOROQUINE [Suspect]
     Active Substance: HYDROXYCHLOROQUINE
     Route: 065
  564. HYDROXYCHLOROQUINE [Suspect]
     Active Substance: HYDROXYCHLOROQUINE
     Route: 065
  565. HYDROXYCHLOROQUINE [Suspect]
     Active Substance: HYDROXYCHLOROQUINE
     Route: 065
  566. HYDROXYCHLOROQUINE [Suspect]
     Active Substance: HYDROXYCHLOROQUINE
     Route: 048
  567. HYDROXYCHLOROQUINE [Suspect]
     Active Substance: HYDROXYCHLOROQUINE
     Route: 048
  568. HYDROXYCHLOROQUINE [Suspect]
     Active Substance: HYDROXYCHLOROQUINE
     Route: 058
  569. HYDROXYCHLOROQUINE [Suspect]
     Active Substance: HYDROXYCHLOROQUINE
     Route: 058
  570. HYDROXYCHLOROQUINE SULFATE [Suspect]
     Active Substance: HYDROXYCHLOROQUINE SULFATE
     Route: 065
  571. HYDROXYCHLOROQUINE SULFATE [Suspect]
     Active Substance: HYDROXYCHLOROQUINE SULFATE
     Route: 065
  572. HYDROXYCHLOROQUINE SULFATE [Suspect]
     Active Substance: HYDROXYCHLOROQUINE SULFATE
     Route: 065
  573. HYDROXYCHLOROQUINE SULFATE [Suspect]
     Active Substance: HYDROXYCHLOROQUINE SULFATE
     Route: 065
  574. HYDROXYCHLOROQUINE SULFATE [Suspect]
     Active Substance: HYDROXYCHLOROQUINE SULFATE
     Route: 065
  575. HYDROXYCHLOROQUINE SULFATE [Suspect]
     Active Substance: HYDROXYCHLOROQUINE SULFATE
     Route: 065
  576. HYDROXYCHLOROQUINE SULFATE [Suspect]
     Active Substance: HYDROXYCHLOROQUINE SULFATE
     Route: 048
  577. HYDROXYCHLOROQUINE SULFATE [Suspect]
     Active Substance: HYDROXYCHLOROQUINE SULFATE
     Route: 048
  578. HYDROXYCHLOROQUINE SULFATE [Suspect]
     Active Substance: HYDROXYCHLOROQUINE SULFATE
     Route: 065
  579. HYDROXYCHLOROQUINE SULFATE [Suspect]
     Active Substance: HYDROXYCHLOROQUINE SULFATE
     Route: 065
  580. HYDROXYCHLOROQUINE SULFATE [Suspect]
     Active Substance: HYDROXYCHLOROQUINE SULFATE
     Route: 065
  581. HYDROXYCHLOROQUINE SULFATE [Suspect]
     Active Substance: HYDROXYCHLOROQUINE SULFATE
     Route: 005
  582. HYDROXYCHLOROQUINE SULFATE [Suspect]
     Active Substance: HYDROXYCHLOROQUINE SULFATE
     Indication: Rheumatoid arthritis
     Route: 048
  583. HYDROXYCHLOROQUINE SULFATE [Suspect]
     Active Substance: HYDROXYCHLOROQUINE SULFATE
     Route: 048
  584. HYDROXYCHLOROQUINE SULFATE [Suspect]
     Active Substance: HYDROXYCHLOROQUINE SULFATE
     Route: 048
  585. HYDROXYCHLOROQUINE SULFATE [Suspect]
     Active Substance: HYDROXYCHLOROQUINE SULFATE
     Route: 048
  586. HYDROXYCHLOROQUINE SULFATE [Suspect]
     Active Substance: HYDROXYCHLOROQUINE SULFATE
     Route: 065
  587. HYDROXYCHLOROQUINE SULFATE [Suspect]
     Active Substance: HYDROXYCHLOROQUINE SULFATE
     Route: 065
  588. HYDROXYCHLOROQUINE SULFATE [Suspect]
     Active Substance: HYDROXYCHLOROQUINE SULFATE
     Route: 065
  589. IMURAN [Suspect]
     Active Substance: AZATHIOPRINE
     Indication: Product used for unknown indication
     Route: 065
  590. INFLIXIMAB [Suspect]
     Active Substance: INFLIXIMAB
     Route: 040
  591. INFLIXIMAB [Suspect]
     Active Substance: INFLIXIMAB
     Route: 040
  592. INFLIXIMAB [Suspect]
     Active Substance: INFLIXIMAB
     Route: 040
  593. INFLIXIMAB [Suspect]
     Active Substance: INFLIXIMAB
     Route: 042
  594. INFLIXIMAB [Suspect]
     Active Substance: INFLIXIMAB
     Route: 065
  595. INFLIXIMAB [Suspect]
     Active Substance: INFLIXIMAB
     Route: 065
  596. INFLIXIMAB [Suspect]
     Active Substance: INFLIXIMAB
     Route: 065
  597. INFLIXIMAB [Suspect]
     Active Substance: INFLIXIMAB
     Route: 065
  598. INFLIXIMAB [Suspect]
     Active Substance: INFLIXIMAB
     Route: 040
  599. INFLIXIMAB [Suspect]
     Active Substance: INFLIXIMAB
     Route: 040
  600. INFLIXIMAB [Suspect]
     Active Substance: INFLIXIMAB
     Route: 042
  601. INFLIXIMAB [Suspect]
     Active Substance: INFLIXIMAB
     Indication: Rheumatoid arthritis
     Route: 065
  602. INFLIXIMAB [Suspect]
     Active Substance: INFLIXIMAB
     Route: 065
  603. INFLIXIMAB [Suspect]
     Active Substance: INFLIXIMAB
     Route: 065
  604. ISOPROPYL ALCOHOL [Suspect]
     Active Substance: ISOPROPYL ALCOHOL
     Indication: Product used for unknown indication
     Route: 061
  605. ISOPROPYL ALCOHOL [Suspect]
     Active Substance: ISOPROPYL ALCOHOL
     Route: 065
  606. ISOPROPYL ALCOHOL [Suspect]
     Active Substance: ISOPROPYL ALCOHOL
     Route: 065
  607. KEVZARA [Suspect]
     Active Substance: SARILUMAB
     Indication: Product used for unknown indication
     Route: 065
  608. LAMICTAL [Suspect]
     Active Substance: LAMOTRIGINE
     Route: 048
  609. LAMICTAL [Suspect]
     Active Substance: LAMOTRIGINE
     Route: 048
  610. LAMICTAL [Suspect]
     Active Substance: LAMOTRIGINE
     Route: 048
  611. LAMICTAL [Suspect]
     Active Substance: LAMOTRIGINE
     Route: 048
  612. LAMICTAL [Suspect]
     Active Substance: LAMOTRIGINE
     Route: 048
  613. LAMICTAL [Suspect]
     Active Substance: LAMOTRIGINE
     Route: 048
  614. LAMICTAL [Suspect]
     Active Substance: LAMOTRIGINE
     Route: 048
  615. LAMICTAL [Suspect]
     Active Substance: LAMOTRIGINE
     Route: 048
  616. LAMICTAL [Suspect]
     Active Substance: LAMOTRIGINE
     Route: 048
  617. LAMICTAL [Suspect]
     Active Substance: LAMOTRIGINE
     Route: 048
  618. LAMICTAL [Suspect]
     Active Substance: LAMOTRIGINE
     Route: 048
  619. LAMICTAL [Suspect]
     Active Substance: LAMOTRIGINE
     Route: 048
  620. LAMICTAL [Suspect]
     Active Substance: LAMOTRIGINE
     Route: 048
  621. LAMICTAL [Suspect]
     Active Substance: LAMOTRIGINE
     Route: 048
  622. LAMICTAL [Suspect]
     Active Substance: LAMOTRIGINE
     Route: 048
  623. LAMICTAL [Suspect]
     Active Substance: LAMOTRIGINE
     Route: 048
  624. LAMICTAL [Suspect]
     Active Substance: LAMOTRIGINE
     Route: 048
  625. LAMICTAL [Suspect]
     Active Substance: LAMOTRIGINE
     Route: 048
  626. LAMICTAL [Suspect]
     Active Substance: LAMOTRIGINE
     Indication: Product used for unknown indication
     Route: 065
  627. LEFLUNOMIDE [Suspect]
     Active Substance: LEFLUNOMIDE
     Route: 048
  628. LEFLUNOMIDE [Suspect]
     Active Substance: LEFLUNOMIDE
     Route: 048
  629. LEFLUNOMIDE [Suspect]
     Active Substance: LEFLUNOMIDE
     Route: 048
  630. LEFLUNOMIDE [Suspect]
     Active Substance: LEFLUNOMIDE
     Route: 065
  631. LEFLUNOMIDE [Suspect]
     Active Substance: LEFLUNOMIDE
     Route: 065
  632. LEFLUNOMIDE [Suspect]
     Active Substance: LEFLUNOMIDE
     Route: 065
  633. LEFLUNOMIDE [Suspect]
     Active Substance: LEFLUNOMIDE
     Indication: Rheumatoid arthritis
     Route: 065
  634. LEFLUNOMIDE [Suspect]
     Active Substance: LEFLUNOMIDE
     Route: 065
  635. LEFLUNOMIDE [Suspect]
     Active Substance: LEFLUNOMIDE
     Route: 065
  636. LEFLUNOMIDE [Suspect]
     Active Substance: LEFLUNOMIDE
     Route: 065
  637. LEFLUNOMIDE [Suspect]
     Active Substance: LEFLUNOMIDE
     Route: 065
  638. LEFLUNOMIDE [Suspect]
     Active Substance: LEFLUNOMIDE
     Route: 065
  639. LEFLUNOMIDE [Suspect]
     Active Substance: LEFLUNOMIDE
     Route: 048
  640. LEFLUNOMIDE [Suspect]
     Active Substance: LEFLUNOMIDE
     Route: 048
  641. LEFLUNOMIDE [Suspect]
     Active Substance: LEFLUNOMIDE
     Route: 048
  642. LEFLUNOMIDE [Suspect]
     Active Substance: LEFLUNOMIDE
     Indication: Product used for unknown indication
     Route: 065
  643. LEFLUNOMIDE [Suspect]
     Active Substance: LEFLUNOMIDE
     Route: 065
  644. LEFLUNOMIDE [Suspect]
     Active Substance: LEFLUNOMIDE
     Route: 065
  645. LEFLUNOMIDE [Suspect]
     Active Substance: LEFLUNOMIDE
     Route: 065
  646. MAGNESIUM CITRATE [Suspect]
     Active Substance: MAGNESIUM CITRATE
     Indication: Product used for unknown indication
     Route: 065
  647. MEGLUMINE [Suspect]
     Active Substance: MEGLUMINE
     Route: 040
  648. MEGLUMINE [Suspect]
     Active Substance: MEGLUMINE
     Route: 042
  649. MEGLUMINE [Suspect]
     Active Substance: MEGLUMINE
     Route: 042
  650. MEGLUMINE [Suspect]
     Active Substance: MEGLUMINE
     Route: 042
  651. MEGLUMINE [Suspect]
     Active Substance: MEGLUMINE
     Indication: Product used for unknown indication
     Route: 065
  652. MEGLUMINE [Suspect]
     Active Substance: MEGLUMINE
     Route: 065
  653. METFORMIN HYDROCHLORIDE [Suspect]
     Active Substance: METFORMIN HYDROCHLORIDE
     Indication: Product used for unknown indication
     Route: 065
  654. METHOTREXATE [Suspect]
     Active Substance: METHOTREXATE
     Route: 048
  655. METHOTREXATE [Suspect]
     Active Substance: METHOTREXATE
     Route: 065
  656. METHOTREXATE [Suspect]
     Active Substance: METHOTREXATE
     Route: 065
  657. METHOTREXATE [Suspect]
     Active Substance: METHOTREXATE
     Route: 058
  658. METHOTREXATE [Suspect]
     Active Substance: METHOTREXATE
     Route: 058
  659. METHOTREXATE [Suspect]
     Active Substance: METHOTREXATE
     Route: 058
  660. METHOTREXATE [Suspect]
     Active Substance: METHOTREXATE
     Route: 065
  661. METHOTREXATE [Suspect]
     Active Substance: METHOTREXATE
     Route: 048
  662. METHOTREXATE [Suspect]
     Active Substance: METHOTREXATE
     Route: 058
  663. METHOTREXATE [Suspect]
     Active Substance: METHOTREXATE
     Route: 048
  664. METHOTREXATE [Suspect]
     Active Substance: METHOTREXATE
     Route: 048
  665. METHOTREXATE [Suspect]
     Active Substance: METHOTREXATE
     Route: 058
  666. METHOTREXATE [Suspect]
     Active Substance: METHOTREXATE
     Route: 065
  667. METHOTREXATE [Suspect]
     Active Substance: METHOTREXATE
     Indication: Rheumatoid arthritis
     Route: 048
  668. METHOTREXATE [Suspect]
     Active Substance: METHOTREXATE
     Route: 048
  669. METHOTREXATE [Suspect]
     Active Substance: METHOTREXATE
     Route: 065
  670. METHOTREXATE [Suspect]
     Active Substance: METHOTREXATE
     Route: 065
  671. METHOTREXATE [Suspect]
     Active Substance: METHOTREXATE
     Route: 065
  672. METHOTREXATE [Suspect]
     Active Substance: METHOTREXATE
     Route: 013
  673. METHOTREXATE [Suspect]
     Active Substance: METHOTREXATE
     Route: 048
  674. METHOTREXATE [Suspect]
     Active Substance: METHOTREXATE
     Route: 065
  675. METHOTREXATE [Suspect]
     Active Substance: METHOTREXATE
     Route: 065
  676. METHOTREXATE [Suspect]
     Active Substance: METHOTREXATE
     Route: 013
  677. METHOTREXATE [Suspect]
     Active Substance: METHOTREXATE
     Route: 013
  678. METHOTREXATE [Suspect]
     Active Substance: METHOTREXATE
     Route: 048
  679. METHOTREXATE [Suspect]
     Active Substance: METHOTREXATE
     Route: 048
  680. METHOTREXATE [Suspect]
     Active Substance: METHOTREXATE
     Route: 065
  681. METHOTREXATE [Suspect]
     Active Substance: METHOTREXATE
     Route: 065
  682. METHOTREXATE [Suspect]
     Active Substance: METHOTREXATE
     Route: 065
  683. METHOTREXATE [Suspect]
     Active Substance: METHOTREXATE
     Route: 065
  684. METHOTREXATE [Suspect]
     Active Substance: METHOTREXATE
     Route: 065
  685. METHOTREXATE [Suspect]
     Active Substance: METHOTREXATE
     Route: 065
  686. METHOTREXATE [Suspect]
     Active Substance: METHOTREXATE
     Route: 048
  687. METHOTREXATE [Suspect]
     Active Substance: METHOTREXATE
     Route: 065
  688. METHOTREXATE [Suspect]
     Active Substance: METHOTREXATE
     Route: 013
  689. METHOTREXATE [Suspect]
     Active Substance: METHOTREXATE
     Route: 013
  690. METHOTREXATE [Suspect]
     Active Substance: METHOTREXATE
     Route: 048
  691. METHOTREXATE [Suspect]
     Active Substance: METHOTREXATE
     Route: 048
  692. METHOTREXATE [Suspect]
     Active Substance: METHOTREXATE
     Route: 058
  693. METHOTREXATE [Suspect]
     Active Substance: METHOTREXATE
     Route: 065
  694. METHOTREXATE [Suspect]
     Active Substance: METHOTREXATE
     Route: 065
  695. METHOTREXATE [Suspect]
     Active Substance: METHOTREXATE
     Route: 065
  696. METHOTREXATE [Suspect]
     Active Substance: METHOTREXATE
     Route: 065
  697. METHOTREXATE [Suspect]
     Active Substance: METHOTREXATE
     Route: 048
  698. METHOTREXATE [Suspect]
     Active Substance: METHOTREXATE
     Route: 048
  699. METHOTREXATE [Suspect]
     Active Substance: METHOTREXATE
     Route: 065
  700. METHOTREXATE [Suspect]
     Active Substance: METHOTREXATE
     Route: 065
  701. METHOTREXATE [Suspect]
     Active Substance: METHOTREXATE
     Route: 048
  702. METHOTREXATE [Suspect]
     Active Substance: METHOTREXATE
     Route: 048
  703. METHOTREXATE [Suspect]
     Active Substance: METHOTREXATE
     Route: 048
  704. METHOTREXATE [Suspect]
     Active Substance: METHOTREXATE
     Route: 048
  705. METHOTREXATE [Suspect]
     Active Substance: METHOTREXATE
     Route: 048
  706. METHOTREXATE [Suspect]
     Active Substance: METHOTREXATE
     Route: 048
  707. METHOTREXATE [Suspect]
     Active Substance: METHOTREXATE
     Route: 048
  708. METHOTREXATE [Suspect]
     Active Substance: METHOTREXATE
     Route: 048
  709. METHOTREXATE [Suspect]
     Active Substance: METHOTREXATE
     Route: 016
  710. METHOTREXATE [Suspect]
     Active Substance: METHOTREXATE
     Route: 048
  711. METHOTREXATE [Suspect]
     Active Substance: METHOTREXATE
     Route: 058
  712. METHOTREXATE [Suspect]
     Active Substance: METHOTREXATE
     Route: 016
  713. METHOTREXATE [Suspect]
     Active Substance: METHOTREXATE
     Route: 016
  714. METHOTREXATE [Suspect]
     Active Substance: METHOTREXATE
     Route: 048
  715. METHOTREXATE [Suspect]
     Active Substance: METHOTREXATE
     Route: 048
  716. METHOTREXATE [Suspect]
     Active Substance: METHOTREXATE
     Route: 048
  717. METHOTREXATE [Suspect]
     Active Substance: METHOTREXATE
     Route: 058
  718. METHOTREXATE [Suspect]
     Active Substance: METHOTREXATE
     Route: 058
  719. METHOTREXATE [Suspect]
     Active Substance: METHOTREXATE
     Route: 058
  720. METHOTREXATE [Suspect]
     Active Substance: METHOTREXATE
     Route: 058
  721. METHOTREXATE [Suspect]
     Active Substance: METHOTREXATE
     Indication: Rheumatoid arthritis
     Route: 065
  722. METHOTREXATE [Suspect]
     Active Substance: METHOTREXATE
     Route: 065
  723. METHOTREXATE [Suspect]
     Active Substance: METHOTREXATE
     Route: 065
  724. METHOTREXATE [Suspect]
     Active Substance: METHOTREXATE
     Route: 065
  725. METHOTREXATE [Suspect]
     Active Substance: METHOTREXATE
     Route: 048
  726. METHOTREXATE [Suspect]
     Active Substance: METHOTREXATE
     Route: 048
  727. METHYLPREDNISOLONE [Suspect]
     Active Substance: METHYLPREDNISOLONE
     Route: 042
  728. METHYLPREDNISOLONE [Suspect]
     Active Substance: METHYLPREDNISOLONE
     Route: 042
  729. METHYLPREDNISOLONE [Suspect]
     Active Substance: METHYLPREDNISOLONE
     Route: 042
  730. METHYLPREDNISOLONE [Suspect]
     Active Substance: METHYLPREDNISOLONE
     Route: 065
  731. METHYLPREDNISOLONE [Suspect]
     Active Substance: METHYLPREDNISOLONE
     Route: 065
  732. METHYLPREDNISOLONE [Suspect]
     Active Substance: METHYLPREDNISOLONE
     Route: 065
  733. METHYLPREDNISOLONE [Suspect]
     Active Substance: METHYLPREDNISOLONE
     Route: 042
  734. METHYLPREDNISOLONE [Suspect]
     Active Substance: METHYLPREDNISOLONE
     Route: 042
  735. METHYLPREDNISOLONE [Suspect]
     Active Substance: METHYLPREDNISOLONE
     Route: 058
  736. METHYLPREDNISOLONE [Suspect]
     Active Substance: METHYLPREDNISOLONE
     Route: 058
  737. METHYLPREDNISOLONE [Suspect]
     Active Substance: METHYLPREDNISOLONE
     Indication: Product used for unknown indication
     Route: 065
  738. METHYLPREDNISOLONE [Suspect]
     Active Substance: METHYLPREDNISOLONE
     Route: 065
  739. METHYLPREDNISOLONE [Suspect]
     Active Substance: METHYLPREDNISOLONE
     Route: 065
  740. METHYLPREDNISOLONE SODIUM SUCCINATE [Suspect]
     Active Substance: METHYLPREDNISOLONE SODIUM SUCCINATE
     Indication: Product used for unknown indication
     Route: 065
  741. METHYLPREDNISOLONE SODIUM SUCCINATE [Suspect]
     Active Substance: METHYLPREDNISOLONE SODIUM SUCCINATE
     Route: 065
  742. MINOCYCLINE [Suspect]
     Active Substance: MINOCYCLINE HYDROCHLORIDE
     Indication: Product used for unknown indication
     Route: 065
  743. MINOCYCLINE [Suspect]
     Active Substance: MINOCYCLINE HYDROCHLORIDE
     Route: 065
  744. MINOCYCLINE [Suspect]
     Active Substance: MINOCYCLINE HYDROCHLORIDE
     Route: 065
  745. MINOCYCLINE [Suspect]
     Active Substance: MINOCYCLINE HYDROCHLORIDE
     Route: 065
  746. MINOCYCLINE [Suspect]
     Active Substance: MINOCYCLINE HYDROCHLORIDE
     Route: 065
  747. MINOCYCLINE [Suspect]
     Active Substance: MINOCYCLINE HYDROCHLORIDE
     Route: 065
  748. MINOCYCLINE [Suspect]
     Active Substance: MINOCYCLINE HYDROCHLORIDE
     Route: 065
  749. MINOCYCLINE HYDROCHLORIDE [Suspect]
     Active Substance: MINOCYCLINE HYDROCHLORIDE
     Indication: Product used for unknown indication
     Route: 065
  750. MINOCYCLINE HYDROCHLORIDE [Suspect]
     Active Substance: MINOCYCLINE HYDROCHLORIDE
     Route: 065
  751. MINOCYCLINE HYDROCHLORIDE [Suspect]
     Active Substance: MINOCYCLINE HYDROCHLORIDE
     Route: 065
  752. MINOCYCLINE HYDROCHLORIDE [Suspect]
     Active Substance: MINOCYCLINE HYDROCHLORIDE
     Route: 065
  753. MYOCHRYSINE [Suspect]
     Active Substance: GOLD SODIUM THIOMALATE
     Indication: Rheumatoid arthritis
     Route: 030
  754. MYOCHRYSINE [Suspect]
     Active Substance: GOLD SODIUM THIOMALATE
     Route: 030
  755. MYOCHRYSINE [Suspect]
     Active Substance: GOLD SODIUM THIOMALATE
     Route: 030
  756. MYRBETRIQ [Suspect]
     Active Substance: MIRABEGRON
     Route: 065
  757. MYRBETRIQ [Suspect]
     Active Substance: MIRABEGRON
     Route: 065
  758. MYRBETRIQ [Suspect]
     Active Substance: MIRABEGRON
     Route: 065
  759. MYRBETRIQ [Suspect]
     Active Substance: MIRABEGRON
     Route: 065
  760. MYRBETRIQ [Suspect]
     Active Substance: MIRABEGRON
     Route: 065
  761. MYRBETRIQ [Suspect]
     Active Substance: MIRABEGRON
     Route: 065
  762. MYRBETRIQ [Suspect]
     Active Substance: MIRABEGRON
     Route: 065
  763. MYRBETRIQ [Suspect]
     Active Substance: MIRABEGRON
     Route: 065
  764. MYRBETRIQ [Suspect]
     Active Substance: MIRABEGRON
     Route: 065
  765. MYRBETRIQ [Suspect]
     Active Substance: MIRABEGRON
     Route: 065
  766. MYRBETRIQ [Suspect]
     Active Substance: MIRABEGRON
     Indication: Product used for unknown indication
     Route: 065
  767. NAPROXEN [Suspect]
     Active Substance: NAPROXEN
     Indication: Product used for unknown indication
     Route: 065
  768. NAPROXEN [Suspect]
     Active Substance: NAPROXEN
     Route: 065
  769. NAPROXEN [Suspect]
     Active Substance: NAPROXEN
     Route: 065
  770. NAPROXEN [Suspect]
     Active Substance: NAPROXEN
     Route: 065
  771. NAPROXEN [Suspect]
     Active Substance: NAPROXEN
     Route: 065
  772. NAPROXEN [Suspect]
     Active Substance: NAPROXEN
     Indication: Product used for unknown indication
     Route: 065
  773. NAPROXEN SODIUM [Suspect]
     Active Substance: NAPROXEN SODIUM
     Indication: Rheumatoid arthritis
     Route: 065
  774. NAPROXEN SODIUM [Suspect]
     Active Substance: NAPROXEN SODIUM
     Route: 065
  775. NAPROXEN SODIUM [Suspect]
     Active Substance: NAPROXEN SODIUM
     Route: 065
  776. NAPROXEN SODIUM [Suspect]
     Active Substance: NAPROXEN SODIUM
     Route: 065
  777. NICOTINAMIDE [Suspect]
     Active Substance: NIACINAMIDE
     Route: 065
  778. NICOTINAMIDE [Suspect]
     Active Substance: NIACINAMIDE
     Indication: Product used for unknown indication
     Route: 065
  779. NUCALA [Suspect]
     Active Substance: MEPOLIZUMAB
     Indication: Product used for unknown indication
     Route: 065
  780. NUCALA [Suspect]
     Active Substance: MEPOLIZUMAB
     Route: 065
  781. ORENCIA [Suspect]
     Active Substance: ABATACEPT
     Indication: Product used for unknown indication
     Route: 058
  782. ORENCIA [Suspect]
     Active Substance: ABATACEPT
     Route: 058
  783. ORENCIA [Suspect]
     Active Substance: ABATACEPT
     Route: 058
  784. ORENCIA [Suspect]
     Active Substance: ABATACEPT
     Route: 058
  785. ORENCIA [Suspect]
     Active Substance: ABATACEPT
     Route: 065
  786. ORENCIA [Suspect]
     Active Substance: ABATACEPT
     Route: 065
  787. ORENCIA [Suspect]
     Active Substance: ABATACEPT
     Route: 065
  788. ORENCIA [Suspect]
     Active Substance: ABATACEPT
     Route: 065
  789. ORENCIA [Suspect]
     Active Substance: ABATACEPT
     Route: 065
  790. ORENCIA [Suspect]
     Active Substance: ABATACEPT
     Route: 065
  791. ORENCIA [Suspect]
     Active Substance: ABATACEPT
     Route: 065
  792. ORENCIA [Suspect]
     Active Substance: ABATACEPT
     Route: 065
  793. ORENCIA [Suspect]
     Active Substance: ABATACEPT
     Route: 042
  794. ORENCIA [Suspect]
     Active Substance: ABATACEPT
     Route: 042
  795. ORENCIA [Suspect]
     Active Substance: ABATACEPT
     Route: 065
  796. ORENCIA [Suspect]
     Active Substance: ABATACEPT
     Route: 042
  797. ORENCIA [Suspect]
     Active Substance: ABATACEPT
     Route: 042
  798. ORENCIA [Suspect]
     Active Substance: ABATACEPT
     Route: 042
  799. ORENCIA [Suspect]
     Active Substance: ABATACEPT
     Route: 042
  800. ORENCIA [Suspect]
     Active Substance: ABATACEPT
     Route: 042
  801. ORENCIA [Suspect]
     Active Substance: ABATACEPT
     Route: 042
  802. ORENCIA [Suspect]
     Active Substance: ABATACEPT
     Route: 065
  803. ORENCIA [Suspect]
     Active Substance: ABATACEPT
     Route: 065
  804. ORENCIA [Suspect]
     Active Substance: ABATACEPT
     Route: 065
  805. ORENCIA [Suspect]
     Active Substance: ABATACEPT
     Route: 065
  806. ORENCIA [Suspect]
     Active Substance: ABATACEPT
     Route: 065
  807. ORENCIA [Suspect]
     Active Substance: ABATACEPT
     Route: 042
  808. ORENCIA [Suspect]
     Active Substance: ABATACEPT
     Route: 042
  809. ORENCIA [Suspect]
     Active Substance: ABATACEPT
     Route: 042
  810. ORENCIA [Suspect]
     Active Substance: ABATACEPT
     Route: 042
  811. ORENCIA [Suspect]
     Active Substance: ABATACEPT
     Route: 058
  812. ORENCIA [Suspect]
     Active Substance: ABATACEPT
     Route: 058
  813. ORENCIA [Suspect]
     Active Substance: ABATACEPT
     Route: 058
  814. ORENCIA [Suspect]
     Active Substance: ABATACEPT
     Route: 058
  815. ORENCIA [Suspect]
     Active Substance: ABATACEPT
     Route: 058
  816. ORENCIA [Suspect]
     Active Substance: ABATACEPT
     Route: 065
  817. ORENCIA [Suspect]
     Active Substance: ABATACEPT
     Route: 065
  818. ORENCIA [Suspect]
     Active Substance: ABATACEPT
     Route: 065
  819. ORENCIA [Suspect]
     Active Substance: ABATACEPT
     Route: 065
  820. ORENCIA [Suspect]
     Active Substance: ABATACEPT
     Route: 065
  821. ORENCIA [Suspect]
     Active Substance: ABATACEPT
     Route: 058
  822. ORENCIA [Suspect]
     Active Substance: ABATACEPT
     Indication: Rheumatoid arthritis
     Route: 065
  823. ORENCIA [Suspect]
     Active Substance: ABATACEPT
     Route: 065
  824. ORENCIA [Suspect]
     Active Substance: ABATACEPT
     Route: 065
  825. ORENCIA [Suspect]
     Active Substance: ABATACEPT
     Route: 065
  826. ORENCIA [Suspect]
     Active Substance: ABATACEPT
     Route: 065
  827. ORENCIA [Suspect]
     Active Substance: ABATACEPT
     Route: 065
  828. ORENCIA [Suspect]
     Active Substance: ABATACEPT
     Route: 065
  829. ORENCIA [Suspect]
     Active Substance: ABATACEPT
     Indication: Rheumatoid arthritis
     Route: 065
  830. OTEZLA [Suspect]
     Active Substance: APREMILAST
     Route: 065
  831. OTEZLA [Suspect]
     Active Substance: APREMILAST
     Indication: Product used for unknown indication
     Route: 065
  832. OTEZLA [Suspect]
     Active Substance: APREMILAST
     Route: 065
  833. OXYCODONE [Suspect]
     Active Substance: OXYCODONE
     Indication: Product used for unknown indication
     Route: 065
  834. OXYCODONE [Suspect]
     Active Substance: OXYCODONE
     Route: 065
  835. OXYCODONE [Suspect]
     Active Substance: OXYCODONE
     Route: 065
  836. OXYCODONE TEREPHTHALATE [Suspect]
     Active Substance: OXYCODONE TEREPHTHALATE
     Indication: Product used for unknown indication
     Route: 065
  837. OXYCODONE TEREPHTHALATE [Suspect]
     Active Substance: OXYCODONE TEREPHTHALATE
     Route: 065
  838. OXYCODONE TEREPHTHALATE [Suspect]
     Active Substance: OXYCODONE TEREPHTHALATE
     Route: 065
  839. PERIOGARD [Suspect]
     Active Substance: CHLORHEXIDINE GLUCONATE
     Indication: Product used for unknown indication
     Route: 065
  840. PHENYLEPHRINE HYDROCHLORIDE [Suspect]
     Active Substance: PHENYLEPHRINE HYDROCHLORIDE
     Route: 065
  841. PHENYLEPHRINE HYDROCHLORIDE [Suspect]
     Active Substance: PHENYLEPHRINE HYDROCHLORIDE
     Route: 065
  842. PHENYLEPHRINE HYDROCHLORIDE [Suspect]
     Active Substance: PHENYLEPHRINE HYDROCHLORIDE
     Route: 065
  843. PHENYLEPHRINE HYDROCHLORIDE [Suspect]
     Active Substance: PHENYLEPHRINE HYDROCHLORIDE
     Indication: Rheumatoid arthritis
     Route: 065
  844. COCOA BUTTER\PHENYLEPHRINE HYDROCHLORIDE [Suspect]
     Active Substance: COCOA BUTTER\PHENYLEPHRINE HYDROCHLORIDE
     Indication: Rheumatoid arthritis
     Route: 065
  845. PHTHALYLSULFATHIAZOLE [Suspect]
     Active Substance: PHTHALYLSULFATHIAZOLE
     Route: 048
  846. PHTHALYLSULFATHIAZOLE [Suspect]
     Active Substance: PHTHALYLSULFATHIAZOLE
     Route: 048
  847. PHTHALYLSULFATHIAZOLE [Suspect]
     Active Substance: PHTHALYLSULFATHIAZOLE
     Route: 048
  848. PHTHALYLSULFATHIAZOLE [Suspect]
     Active Substance: PHTHALYLSULFATHIAZOLE
     Route: 048
  849. PHTHALYLSULFATHIAZOLE [Suspect]
     Active Substance: PHTHALYLSULFATHIAZOLE
     Route: 048
  850. PHTHALYLSULFATHIAZOLE [Suspect]
     Active Substance: PHTHALYLSULFATHIAZOLE
     Route: 065
  851. PHTHALYLSULFATHIAZOLE [Suspect]
     Active Substance: PHTHALYLSULFATHIAZOLE
     Route: 065
  852. PHTHALYLSULFATHIAZOLE [Suspect]
     Active Substance: PHTHALYLSULFATHIAZOLE
     Route: 065
  853. PHTHALYLSULFATHIAZOLE [Suspect]
     Active Substance: PHTHALYLSULFATHIAZOLE
     Indication: Product used for unknown indication
     Route: 048
  854. PHTHALYLSULFATHIAZOLE [Suspect]
     Active Substance: PHTHALYLSULFATHIAZOLE
     Route: 048
  855. PHTHALYLSULFATHIAZOLE [Suspect]
     Active Substance: PHTHALYLSULFATHIAZOLE
     Route: 048
  856. PHTHALYLSULFATHIAZOLE [Suspect]
     Active Substance: PHTHALYLSULFATHIAZOLE
     Route: 048
  857. PHTHALYLSULFATHIAZOLE [Suspect]
     Active Substance: PHTHALYLSULFATHIAZOLE
     Route: 048
  858. PHTHALYLSULFATHIAZOLE [Suspect]
     Active Substance: PHTHALYLSULFATHIAZOLE
     Route: 042
  859. PHTHALYLSULFATHIAZOLE [Suspect]
     Active Substance: PHTHALYLSULFATHIAZOLE
     Route: 042
  860. PHTHALYLSULFATHIAZOLE [Suspect]
     Active Substance: PHTHALYLSULFATHIAZOLE
     Route: 042
  861. PHTHALYLSULFATHIAZOLE [Suspect]
     Active Substance: PHTHALYLSULFATHIAZOLE
     Route: 042
  862. PHTHALYLSULFATHIAZOLE [Suspect]
     Active Substance: PHTHALYLSULFATHIAZOLE
     Route: 058
  863. PHTHALYLSULFATHIAZOLE [Suspect]
     Active Substance: PHTHALYLSULFATHIAZOLE
     Route: 058
  864. PHTHALYLSULFATHIAZOLE [Suspect]
     Active Substance: PHTHALYLSULFATHIAZOLE
     Route: 058
  865. PHTHALYLSULFATHIAZOLE [Suspect]
     Active Substance: PHTHALYLSULFATHIAZOLE
     Route: 058
  866. PHTHALYLSULFATHIAZOLE [Suspect]
     Active Substance: PHTHALYLSULFATHIAZOLE
     Route: 058
  867. PHTHALYLSULFATHIAZOLE [Suspect]
     Active Substance: PHTHALYLSULFATHIAZOLE
     Route: 065
  868. PHTHALYLSULFATHIAZOLE [Suspect]
     Active Substance: PHTHALYLSULFATHIAZOLE
     Route: 065
  869. PHTHALYLSULFATHIAZOLE [Suspect]
     Active Substance: PHTHALYLSULFATHIAZOLE
     Route: 065
  870. PHTHALYLSULFATHIAZOLE [Suspect]
     Active Substance: PHTHALYLSULFATHIAZOLE
     Route: 065
  871. PHTHALYLSULFATHIAZOLE [Suspect]
     Active Substance: PHTHALYLSULFATHIAZOLE
     Route: 065
  872. PHTHALYLSULFATHIAZOLE [Suspect]
     Active Substance: PHTHALYLSULFATHIAZOLE
     Route: 065
  873. PHTHALYLSULFATHIAZOLE [Suspect]
     Active Substance: PHTHALYLSULFATHIAZOLE
     Route: 065
  874. PHTHALYLSULFATHIAZOLE [Suspect]
     Active Substance: PHTHALYLSULFATHIAZOLE
     Route: 065
  875. PHTHALYLSULFATHIAZOLE [Suspect]
     Active Substance: PHTHALYLSULFATHIAZOLE
     Route: 065
  876. PHTHALYLSULFATHIAZOLE [Suspect]
     Active Substance: PHTHALYLSULFATHIAZOLE
     Route: 065
  877. PHTHALYLSULFATHIAZOLE [Suspect]
     Active Substance: PHTHALYLSULFATHIAZOLE
     Route: 065
  878. PHTHALYLSULFATHIAZOLE [Suspect]
     Active Substance: PHTHALYLSULFATHIAZOLE
     Route: 065
  879. PHTHALYLSULFATHIAZOLE [Suspect]
     Active Substance: PHTHALYLSULFATHIAZOLE
     Indication: Rheumatoid arthritis
     Route: 065
  880. PREDNISONE [Suspect]
     Active Substance: PREDNISONE
     Route: 048
  881. PREDNISONE [Suspect]
     Active Substance: PREDNISONE
     Route: 048
  882. PREDNISONE [Suspect]
     Active Substance: PREDNISONE
     Route: 065
  883. PREDNISONE [Suspect]
     Active Substance: PREDNISONE
     Route: 065
  884. PREDNISONE [Suspect]
     Active Substance: PREDNISONE
     Route: 065
  885. PREDNISONE [Suspect]
     Active Substance: PREDNISONE
     Route: 065
  886. PREDNISONE [Suspect]
     Active Substance: PREDNISONE
     Route: 065
  887. PREDNISONE [Suspect]
     Active Substance: PREDNISONE
     Route: 065
  888. PREDNISONE [Suspect]
     Active Substance: PREDNISONE
     Route: 048
  889. PREDNISONE [Suspect]
     Active Substance: PREDNISONE
     Route: 048
  890. PREDNISONE [Suspect]
     Active Substance: PREDNISONE
     Route: 048
  891. PREDNISONE [Suspect]
     Active Substance: PREDNISONE
     Route: 048
  892. PREDNISONE [Suspect]
     Active Substance: PREDNISONE
     Route: 048
  893. PREDNISONE [Suspect]
     Active Substance: PREDNISONE
     Route: 048
  894. PREDNISONE [Suspect]
     Active Substance: PREDNISONE
     Route: 065
  895. PREDNISONE [Suspect]
     Active Substance: PREDNISONE
     Route: 065
  896. PREDNISONE [Suspect]
     Active Substance: PREDNISONE
     Route: 065
  897. PREDNISONE [Suspect]
     Active Substance: PREDNISONE
     Route: 048
  898. PREDNISONE [Suspect]
     Active Substance: PREDNISONE
     Route: 048
  899. PREDNISONE [Suspect]
     Active Substance: PREDNISONE
     Route: 065
  900. PREDNISONE [Suspect]
     Active Substance: PREDNISONE
     Route: 048
  901. PREDNISONE [Suspect]
     Active Substance: PREDNISONE
     Route: 048
  902. PREDNISONE [Suspect]
     Active Substance: PREDNISONE
     Route: 048
  903. PREDNISONE [Suspect]
     Active Substance: PREDNISONE
     Route: 065
  904. PREDNISONE [Suspect]
     Active Substance: PREDNISONE
     Route: 065
  905. PREDNISONE [Suspect]
     Active Substance: PREDNISONE
     Route: 065
  906. PREDNISONE [Suspect]
     Active Substance: PREDNISONE
     Route: 065
  907. PREDNISONE [Suspect]
     Active Substance: PREDNISONE
     Route: 065
  908. PREDNISONE [Suspect]
     Active Substance: PREDNISONE
     Route: 065
  909. PREDNISONE [Suspect]
     Active Substance: PREDNISONE
     Indication: Rheumatoid arthritis
     Route: 065
  910. PSEUDOEPHEDRINE [Suspect]
     Active Substance: PSEUDOEPHEDRINE
     Route: 065
  911. PSEUDOEPHEDRINE [Suspect]
     Active Substance: PSEUDOEPHEDRINE
     Route: 065
  912. PSEUDOEPHEDRINE [Suspect]
     Active Substance: PSEUDOEPHEDRINE
     Route: 065
  913. PSEUDOEPHEDRINE [Suspect]
     Active Substance: PSEUDOEPHEDRINE
     Route: 065
  914. PSEUDOEPHEDRINE [Suspect]
     Active Substance: PSEUDOEPHEDRINE
     Route: 065
  915. PSEUDOEPHEDRINE [Suspect]
     Active Substance: PSEUDOEPHEDRINE
     Route: 065
  916. PSEUDOEPHEDRINE [Suspect]
     Active Substance: PSEUDOEPHEDRINE
     Route: 065
  917. PSEUDOEPHEDRINE [Suspect]
     Active Substance: PSEUDOEPHEDRINE
     Route: 065
  918. PSEUDOEPHEDRINE [Suspect]
     Active Substance: PSEUDOEPHEDRINE
     Route: 065
  919. PSEUDOEPHEDRINE [Suspect]
     Active Substance: PSEUDOEPHEDRINE
     Indication: Rheumatoid arthritis
     Route: 065
  920. PSEUDOEPHEDRINE [Suspect]
     Active Substance: PSEUDOEPHEDRINE
     Route: 065
  921. PSEUDOEPHEDRINE [Suspect]
     Active Substance: PSEUDOEPHEDRINE
     Route: 065
  922. RAMIPRIL [Suspect]
     Active Substance: RAMIPRIL
     Route: 016
  923. RAMIPRIL [Suspect]
     Active Substance: RAMIPRIL
     Route: 016
  924. RAMIPRIL [Suspect]
     Active Substance: RAMIPRIL
     Route: 042
  925. RAMIPRIL [Suspect]
     Active Substance: RAMIPRIL
     Route: 042
  926. RAMIPRIL [Suspect]
     Active Substance: RAMIPRIL
     Indication: Rheumatoid arthritis
     Route: 065
  927. RAMIPRIL [Suspect]
     Active Substance: RAMIPRIL
     Route: 065
  928. RAMIPRIL [Suspect]
     Active Substance: RAMIPRIL
     Route: 065
  929. RAMIPRIL [Suspect]
     Active Substance: RAMIPRIL
     Route: 065
  930. RANITIDINE [Suspect]
     Active Substance: RANITIDINE
     Route: 065
  931. RANITIDINE [Suspect]
     Active Substance: RANITIDINE
     Route: 065
  932. RANITIDINE [Suspect]
     Active Substance: RANITIDINE
     Indication: Product used for unknown indication
     Route: 065
  933. RANITIDINE HYDROCHLORIDE [Suspect]
     Active Substance: RANITIDINE HYDROCHLORIDE
     Indication: Product used for unknown indication
     Route: 065
  934. CETIRIZINE HYDROCHLORIDE\PSEUDOEPHEDRINE HYDROCHLORIDE [Suspect]
     Active Substance: CETIRIZINE HYDROCHLORIDE\PSEUDOEPHEDRINE HYDROCHLORIDE
     Route: 065
  935. CETIRIZINE HYDROCHLORIDE\PSEUDOEPHEDRINE HYDROCHLORIDE [Suspect]
     Active Substance: CETIRIZINE HYDROCHLORIDE\PSEUDOEPHEDRINE HYDROCHLORIDE
     Route: 065
  936. CETIRIZINE HYDROCHLORIDE\PSEUDOEPHEDRINE HYDROCHLORIDE [Suspect]
     Active Substance: CETIRIZINE HYDROCHLORIDE\PSEUDOEPHEDRINE HYDROCHLORIDE
     Route: 065
  937. CETIRIZINE HYDROCHLORIDE\PSEUDOEPHEDRINE HYDROCHLORIDE [Suspect]
     Active Substance: CETIRIZINE HYDROCHLORIDE\PSEUDOEPHEDRINE HYDROCHLORIDE
     Route: 065
  938. CETIRIZINE HYDROCHLORIDE\PSEUDOEPHEDRINE HYDROCHLORIDE [Suspect]
     Active Substance: CETIRIZINE HYDROCHLORIDE\PSEUDOEPHEDRINE HYDROCHLORIDE
     Route: 065
  939. CETIRIZINE HYDROCHLORIDE\PSEUDOEPHEDRINE HYDROCHLORIDE [Suspect]
     Active Substance: CETIRIZINE HYDROCHLORIDE\PSEUDOEPHEDRINE HYDROCHLORIDE
     Route: 065
  940. CETIRIZINE HYDROCHLORIDE\PSEUDOEPHEDRINE HYDROCHLORIDE [Suspect]
     Active Substance: CETIRIZINE HYDROCHLORIDE\PSEUDOEPHEDRINE HYDROCHLORIDE
     Route: 065
  941. CETIRIZINE HYDROCHLORIDE\PSEUDOEPHEDRINE HYDROCHLORIDE [Suspect]
     Active Substance: CETIRIZINE HYDROCHLORIDE\PSEUDOEPHEDRINE HYDROCHLORIDE
     Route: 065
  942. CETIRIZINE HYDROCHLORIDE\PSEUDOEPHEDRINE HYDROCHLORIDE [Suspect]
     Active Substance: CETIRIZINE HYDROCHLORIDE\PSEUDOEPHEDRINE HYDROCHLORIDE
     Route: 065
  943. CETIRIZINE HYDROCHLORIDE\PSEUDOEPHEDRINE HYDROCHLORIDE [Suspect]
     Active Substance: CETIRIZINE HYDROCHLORIDE\PSEUDOEPHEDRINE HYDROCHLORIDE
     Route: 065
  944. CETIRIZINE HYDROCHLORIDE\PSEUDOEPHEDRINE HYDROCHLORIDE [Suspect]
     Active Substance: CETIRIZINE HYDROCHLORIDE\PSEUDOEPHEDRINE HYDROCHLORIDE
     Route: 065
  945. CETIRIZINE HYDROCHLORIDE\PSEUDOEPHEDRINE HYDROCHLORIDE [Suspect]
     Active Substance: CETIRIZINE HYDROCHLORIDE\PSEUDOEPHEDRINE HYDROCHLORIDE
     Route: 065
  946. CETIRIZINE HYDROCHLORIDE\PSEUDOEPHEDRINE HYDROCHLORIDE [Suspect]
     Active Substance: CETIRIZINE HYDROCHLORIDE\PSEUDOEPHEDRINE HYDROCHLORIDE
     Route: 065
  947. CETIRIZINE HYDROCHLORIDE\PSEUDOEPHEDRINE HYDROCHLORIDE [Suspect]
     Active Substance: CETIRIZINE HYDROCHLORIDE\PSEUDOEPHEDRINE HYDROCHLORIDE
     Route: 065
  948. CETIRIZINE HYDROCHLORIDE\PSEUDOEPHEDRINE HYDROCHLORIDE [Suspect]
     Active Substance: CETIRIZINE HYDROCHLORIDE\PSEUDOEPHEDRINE HYDROCHLORIDE
     Route: 040
  949. CETIRIZINE HYDROCHLORIDE\PSEUDOEPHEDRINE HYDROCHLORIDE [Suspect]
     Active Substance: CETIRIZINE HYDROCHLORIDE\PSEUDOEPHEDRINE HYDROCHLORIDE
     Route: 042
  950. CETIRIZINE HYDROCHLORIDE\PSEUDOEPHEDRINE HYDROCHLORIDE [Suspect]
     Active Substance: CETIRIZINE HYDROCHLORIDE\PSEUDOEPHEDRINE HYDROCHLORIDE
     Indication: Rheumatoid arthritis
     Route: 065
  951. CETIRIZINE HYDROCHLORIDE\PSEUDOEPHEDRINE HYDROCHLORIDE [Suspect]
     Active Substance: CETIRIZINE HYDROCHLORIDE\PSEUDOEPHEDRINE HYDROCHLORIDE
     Route: 065
  952. CETIRIZINE HYDROCHLORIDE\PSEUDOEPHEDRINE HYDROCHLORIDE [Suspect]
     Active Substance: CETIRIZINE HYDROCHLORIDE\PSEUDOEPHEDRINE HYDROCHLORIDE
     Route: 065
  953. CETIRIZINE HYDROCHLORIDE\PSEUDOEPHEDRINE HYDROCHLORIDE [Suspect]
     Active Substance: CETIRIZINE HYDROCHLORIDE\PSEUDOEPHEDRINE HYDROCHLORIDE
     Route: 065
  954. CETIRIZINE HYDROCHLORIDE\PSEUDOEPHEDRINE HYDROCHLORIDE [Suspect]
     Active Substance: CETIRIZINE HYDROCHLORIDE\PSEUDOEPHEDRINE HYDROCHLORIDE
     Route: 065
  955. CETIRIZINE HYDROCHLORIDE\PSEUDOEPHEDRINE HYDROCHLORIDE [Suspect]
     Active Substance: CETIRIZINE HYDROCHLORIDE\PSEUDOEPHEDRINE HYDROCHLORIDE
     Route: 065
  956. CETIRIZINE HYDROCHLORIDE\PSEUDOEPHEDRINE HYDROCHLORIDE [Suspect]
     Active Substance: CETIRIZINE HYDROCHLORIDE\PSEUDOEPHEDRINE HYDROCHLORIDE
     Route: 065
  957. CETIRIZINE HYDROCHLORIDE\PSEUDOEPHEDRINE HYDROCHLORIDE [Suspect]
     Active Substance: CETIRIZINE HYDROCHLORIDE\PSEUDOEPHEDRINE HYDROCHLORIDE
     Route: 065
  958. CETIRIZINE HYDROCHLORIDE\PSEUDOEPHEDRINE HYDROCHLORIDE [Suspect]
     Active Substance: CETIRIZINE HYDROCHLORIDE\PSEUDOEPHEDRINE HYDROCHLORIDE
     Route: 065
  959. REMICADE [Suspect]
     Active Substance: INFLIXIMAB
     Route: 040
  960. REMICADE [Suspect]
     Active Substance: INFLIXIMAB
     Route: 042
  961. REMICADE [Suspect]
     Active Substance: INFLIXIMAB
     Route: 065
  962. REMICADE [Suspect]
     Active Substance: INFLIXIMAB
     Route: 040
  963. REMICADE [Suspect]
     Active Substance: INFLIXIMAB
     Route: 042
  964. REMICADE [Suspect]
     Active Substance: INFLIXIMAB
     Route: 042
  965. REMICADE [Suspect]
     Active Substance: INFLIXIMAB
     Route: 065
  966. REMICADE [Suspect]
     Active Substance: INFLIXIMAB
     Route: 065
  967. REMICADE [Suspect]
     Active Substance: INFLIXIMAB
     Route: 042
  968. REMICADE [Suspect]
     Active Substance: INFLIXIMAB
     Route: 042
  969. REMICADE [Suspect]
     Active Substance: INFLIXIMAB
     Route: 065
  970. REMICADE [Suspect]
     Active Substance: INFLIXIMAB
     Route: 040
  971. REMICADE [Suspect]
     Active Substance: INFLIXIMAB
     Route: 040
  972. REMICADE [Suspect]
     Active Substance: INFLIXIMAB
     Route: 042
  973. REMICADE [Suspect]
     Active Substance: INFLIXIMAB
     Route: 042
  974. REMICADE [Suspect]
     Active Substance: INFLIXIMAB
     Route: 042
  975. REMICADE [Suspect]
     Active Substance: INFLIXIMAB
     Route: 058
  976. REMICADE [Suspect]
     Active Substance: INFLIXIMAB
     Route: 058
  977. REMICADE [Suspect]
     Active Substance: INFLIXIMAB
     Route: 058
  978. REMICADE [Suspect]
     Active Substance: INFLIXIMAB
     Route: 058
  979. REMICADE [Suspect]
     Active Substance: INFLIXIMAB
     Route: 058
  980. REMICADE [Suspect]
     Active Substance: INFLIXIMAB
     Route: 058
  981. REMICADE [Suspect]
     Active Substance: INFLIXIMAB
     Route: 065
  982. REMICADE [Suspect]
     Active Substance: INFLIXIMAB
     Route: 065
  983. REMICADE [Suspect]
     Active Substance: INFLIXIMAB
     Route: 065
  984. REMICADE [Suspect]
     Active Substance: INFLIXIMAB
     Route: 065
  985. REMICADE [Suspect]
     Active Substance: INFLIXIMAB
     Indication: Rheumatoid arthritis
     Route: 065
  986. RITUXIMAB [Suspect]
     Active Substance: RITUXIMAB
     Route: 065
  987. RITUXIMAB [Suspect]
     Active Substance: RITUXIMAB
     Route: 065
  988. RITUXIMAB [Suspect]
     Active Substance: RITUXIMAB
     Indication: Rheumatoid arthritis
     Route: 065
  989. RITUXIMAB [Suspect]
     Active Substance: RITUXIMAB
     Route: 065
  990. RITUXIMAB [Suspect]
     Active Substance: RITUXIMAB
     Route: 065
  991. RITUXIMAB [Suspect]
     Active Substance: RITUXIMAB
     Route: 042
  992. RITUXIMAB [Suspect]
     Active Substance: RITUXIMAB
     Route: 042
  993. RITUXIMAB [Suspect]
     Active Substance: RITUXIMAB
     Route: 065
  994. RITUXIMAB [Suspect]
     Active Substance: RITUXIMAB
     Route: 065
  995. RITUXIMAB [Suspect]
     Active Substance: RITUXIMAB
     Route: 042
  996. RITUXIMAB [Suspect]
     Active Substance: RITUXIMAB
     Route: 065
  997. RITUXIMAB [Suspect]
     Active Substance: RITUXIMAB
     Route: 065
  998. RITUXIMAB [Suspect]
     Active Substance: RITUXIMAB
     Route: 065
  999. RITUXIMAB [Suspect]
     Active Substance: RITUXIMAB
     Route: 065
  1000. RITUXIMAB [Suspect]
     Active Substance: RITUXIMAB
     Route: 065
  1001. RITUXIMAB [Suspect]
     Active Substance: RITUXIMAB
     Route: 065
  1002. RITUXIMAB [Suspect]
     Active Substance: RITUXIMAB
     Route: 065
  1003. RITUXIMAB [Suspect]
     Active Substance: RITUXIMAB
     Route: 065
  1004. RITUXIMAB [Suspect]
     Active Substance: RITUXIMAB
     Route: 065
  1005. RITUXIMAB [Suspect]
     Active Substance: RITUXIMAB
     Route: 065
  1006. RITUXIMAB [Suspect]
     Active Substance: RITUXIMAB
     Route: 065
  1007. RITUXIMAB [Suspect]
     Active Substance: RITUXIMAB
     Route: 065
  1008. RITUXIMAB [Suspect]
     Active Substance: RITUXIMAB
     Route: 016
  1009. RITUXIMAB [Suspect]
     Active Substance: RITUXIMAB
     Route: 016
  1010. RITUXIMAB [Suspect]
     Active Substance: RITUXIMAB
     Route: 016
  1011. RITUXIMAB [Suspect]
     Active Substance: RITUXIMAB
     Route: 016
  1012. RITUXIMAB [Suspect]
     Active Substance: RITUXIMAB
     Route: 016
  1013. RITUXIMAB [Suspect]
     Active Substance: RITUXIMAB
     Route: 016
  1014. RITUXIMAB [Suspect]
     Active Substance: RITUXIMAB
     Route: 016
  1015. RITUXIMAB [Suspect]
     Active Substance: RITUXIMAB
     Indication: Rheumatoid arthritis
     Route: 042
  1016. RITUXIMAB [Suspect]
     Active Substance: RITUXIMAB
     Route: 042
  1017. RITUXIMAB [Suspect]
     Active Substance: RITUXIMAB
     Route: 042
  1018. RITUXIMAB [Suspect]
     Active Substance: RITUXIMAB
     Route: 042
  1019. RITUXIMAB [Suspect]
     Active Substance: RITUXIMAB
     Route: 042
  1020. RITUXIMAB [Suspect]
     Active Substance: RITUXIMAB
     Route: 043
  1021. RITUXIMAB [Suspect]
     Active Substance: RITUXIMAB
     Route: 043
  1022. RITUXIMAB [Suspect]
     Active Substance: RITUXIMAB
     Route: 043
  1023. RITUXIMAB [Suspect]
     Active Substance: RITUXIMAB
     Route: 043
  1024. RITUXIMAB [Suspect]
     Active Substance: RITUXIMAB
     Route: 043
  1025. RITUXIMAB [Suspect]
     Active Substance: RITUXIMAB
     Route: 058
  1026. RITUXIMAB [Suspect]
     Active Substance: RITUXIMAB
     Route: 058
  1027. RITUXIMAB [Suspect]
     Active Substance: RITUXIMAB
     Route: 058
  1028. RITUXIMAB [Suspect]
     Active Substance: RITUXIMAB
     Route: 058
  1029. RITUXIMAB [Suspect]
     Active Substance: RITUXIMAB
     Route: 058
  1030. RITUXIMAB [Suspect]
     Active Substance: RITUXIMAB
     Route: 058
  1031. RITUXIMAB [Suspect]
     Active Substance: RITUXIMAB
     Route: 065
  1032. RITUXIMAB [Suspect]
     Active Substance: RITUXIMAB
     Route: 065
  1033. RITUXIMAB [Suspect]
     Active Substance: RITUXIMAB
     Route: 065
  1034. RITUXIMAB [Suspect]
     Active Substance: RITUXIMAB
     Route: 065
  1035. RITUXIMAB [Suspect]
     Active Substance: RITUXIMAB
     Route: 065
  1036. RITUXIMAB [Suspect]
     Active Substance: RITUXIMAB
     Route: 065
  1037. RITUXIMAB [Suspect]
     Active Substance: RITUXIMAB
     Route: 065
  1038. RITUXIMAB [Suspect]
     Active Substance: RITUXIMAB
     Route: 042
  1039. RITUXIMAB [Suspect]
     Active Substance: RITUXIMAB
     Route: 042
  1040. RITUXIMAB [Suspect]
     Active Substance: RITUXIMAB
     Route: 043
  1041. RITUXIMAB [Suspect]
     Active Substance: RITUXIMAB
     Route: 058
  1042. SULFASALAZINE [Suspect]
     Active Substance: SULFASALAZINE
     Route: 065
  1043. SULFASALAZINE [Suspect]
     Active Substance: SULFASALAZINE
     Indication: Product used for unknown indication
     Route: 065
  1044. SIMPONI [Suspect]
     Active Substance: GOLIMUMAB
     Route: 058
  1045. SIMPONI [Suspect]
     Active Substance: GOLIMUMAB
     Route: 058
  1046. SIMPONI [Suspect]
     Active Substance: GOLIMUMAB
     Route: 065
  1047. SIMPONI [Suspect]
     Active Substance: GOLIMUMAB
     Indication: Product used for unknown indication
     Route: 058
  1048. SIMPONI [Suspect]
     Active Substance: GOLIMUMAB
     Route: 058
  1049. SIMPONI [Suspect]
     Active Substance: GOLIMUMAB
     Route: 058
  1050. SIMPONI [Suspect]
     Active Substance: GOLIMUMAB
     Route: 058
  1051. SIMPONI [Suspect]
     Active Substance: GOLIMUMAB
     Route: 065
  1052. SIRUKUMAB [Suspect]
     Active Substance: SIRUKUMAB
     Route: 065
  1053. SIRUKUMAB [Suspect]
     Active Substance: SIRUKUMAB
     Indication: Product used for unknown indication
     Route: 065
  1054. GOLD SODIUM THIOMALATE [Suspect]
     Active Substance: GOLD SODIUM THIOMALATE
     Route: 065
  1055. GOLD SODIUM THIOMALATE [Suspect]
     Active Substance: GOLD SODIUM THIOMALATE
     Route: 058
  1056. GOLD SODIUM THIOMALATE [Suspect]
     Active Substance: GOLD SODIUM THIOMALATE
     Route: 042
  1057. GOLD SODIUM THIOMALATE [Suspect]
     Active Substance: GOLD SODIUM THIOMALATE
     Indication: Rheumatoid arthritis
     Route: 065
  1058. GOLD SODIUM THIOMALATE [Suspect]
     Active Substance: GOLD SODIUM THIOMALATE
     Route: 042
  1059. GOLD SODIUM THIOMALATE [Suspect]
     Active Substance: GOLD SODIUM THIOMALATE
     Route: 048
  1060. GOLD SODIUM THIOMALATE [Suspect]
     Active Substance: GOLD SODIUM THIOMALATE
     Indication: Product used for unknown indication
     Route: 058
  1061. GOLD SODIUM THIOMALATE [Suspect]
     Active Substance: GOLD SODIUM THIOMALATE
     Route: 065
  1062. GOLD SODIUM THIOMALATE [Suspect]
     Active Substance: GOLD SODIUM THIOMALATE
     Route: 065
  1063. GOLD SODIUM THIOMALATE [Suspect]
     Active Substance: GOLD SODIUM THIOMALATE
     Route: 065
  1064. STELARA [Suspect]
     Active Substance: USTEKINUMAB
     Route: 065
  1065. STELARA [Suspect]
     Active Substance: USTEKINUMAB
     Route: 065
  1066. STELARA [Suspect]
     Active Substance: USTEKINUMAB
     Indication: Product used for unknown indication
     Route: 058
  1067. STELARA [Suspect]
     Active Substance: USTEKINUMAB
     Route: 058
  1068. STELARA [Suspect]
     Active Substance: USTEKINUMAB
     Route: 058
  1069. SULFAMETHOXAZOLE AND TRIMETHOPRIM [Suspect]
     Active Substance: SULFAMETHOXAZOLE\TRIMETHOPRIM
     Indication: Product used for unknown indication
     Route: 065
  1070. SULFASALAZINE [Suspect]
     Active Substance: SULFASALAZINE
     Route: 048
  1071. SULFASALAZINE [Suspect]
     Active Substance: SULFASALAZINE
     Route: 048
  1072. SULFASALAZINE [Suspect]
     Active Substance: SULFASALAZINE
     Route: 048
  1073. SULFASALAZINE [Suspect]
     Active Substance: SULFASALAZINE
     Route: 048
  1074. SULFASALAZINE [Suspect]
     Active Substance: SULFASALAZINE
     Route: 048
  1075. SULFASALAZINE [Suspect]
     Active Substance: SULFASALAZINE
     Route: 058
  1076. SULFASALAZINE [Suspect]
     Active Substance: SULFASALAZINE
     Route: 058
  1077. SULFASALAZINE [Suspect]
     Active Substance: SULFASALAZINE
     Route: 058
  1078. SULFASALAZINE [Suspect]
     Active Substance: SULFASALAZINE
     Route: 065
  1079. SULFASALAZINE [Suspect]
     Active Substance: SULFASALAZINE
     Route: 065
  1080. SULFASALAZINE [Suspect]
     Active Substance: SULFASALAZINE
     Route: 048
  1081. SULFASALAZINE [Suspect]
     Active Substance: SULFASALAZINE
     Route: 058
  1082. SULFASALAZINE [Suspect]
     Active Substance: SULFASALAZINE
     Route: 048
  1083. SULFASALAZINE [Suspect]
     Active Substance: SULFASALAZINE
     Route: 058
  1084. SULFASALAZINE [Suspect]
     Active Substance: SULFASALAZINE
     Route: 048
  1085. SULFASALAZINE [Suspect]
     Active Substance: SULFASALAZINE
     Route: 065
  1086. SULFASALAZINE [Suspect]
     Active Substance: SULFASALAZINE
     Route: 065
  1087. SULFASALAZINE [Suspect]
     Active Substance: SULFASALAZINE
     Route: 058
  1088. SULFASALAZINE [Suspect]
     Active Substance: SULFASALAZINE
     Route: 065
  1089. SULFASALAZINE [Suspect]
     Active Substance: SULFASALAZINE
     Route: 065
  1090. SULFASALAZINE [Suspect]
     Active Substance: SULFASALAZINE
     Route: 048
  1091. SULFASALAZINE [Suspect]
     Active Substance: SULFASALAZINE
     Route: 058
  1092. SULFASALAZINE [Suspect]
     Active Substance: SULFASALAZINE
     Route: 016
  1093. SULFASALAZINE [Suspect]
     Active Substance: SULFASALAZINE
     Route: 048
  1094. SULFASALAZINE [Suspect]
     Active Substance: SULFASALAZINE
     Route: 048
  1095. SULFASALAZINE [Suspect]
     Active Substance: SULFASALAZINE
     Route: 048
  1096. SULFASALAZINE [Suspect]
     Active Substance: SULFASALAZINE
     Route: 048
  1097. SULFASALAZINE [Suspect]
     Active Substance: SULFASALAZINE
     Route: 058
  1098. SULFASALAZINE [Suspect]
     Active Substance: SULFASALAZINE
     Route: 058
  1099. SULFASALAZINE [Suspect]
     Active Substance: SULFASALAZINE
     Indication: Rheumatoid arthritis
     Route: 065
  1100. SULFASALAZINE [Suspect]
     Active Substance: SULFASALAZINE
     Route: 065
  1101. SULFASALAZINE [Suspect]
     Active Substance: SULFASALAZINE
     Route: 048
  1102. SULFASALAZINE [Suspect]
     Active Substance: SULFASALAZINE
     Route: 048
  1103. TETRACYCLINE HYDROCHLORIDE [Suspect]
     Active Substance: TETRACYCLINE HYDROCHLORIDE
     Indication: Rheumatoid arthritis
     Route: 065
  1104. TOCILIZUMAB [Suspect]
     Active Substance: TOCILIZUMAB
     Route: 065
  1105. TOCILIZUMAB [Suspect]
     Active Substance: TOCILIZUMAB
     Route: 065
  1106. TOCILIZUMAB [Suspect]
     Active Substance: TOCILIZUMAB
     Route: 058
  1107. TOCILIZUMAB [Suspect]
     Active Substance: TOCILIZUMAB
     Route: 058
  1108. TOCILIZUMAB [Suspect]
     Active Substance: TOCILIZUMAB
     Route: 058
  1109. TOCILIZUMAB [Suspect]
     Active Substance: TOCILIZUMAB
     Route: 058
  1110. TOCILIZUMAB [Suspect]
     Active Substance: TOCILIZUMAB
     Route: 058
  1111. TOCILIZUMAB [Suspect]
     Active Substance: TOCILIZUMAB
     Route: 042
  1112. TOCILIZUMAB [Suspect]
     Active Substance: TOCILIZUMAB
     Route: 058
  1113. TOCILIZUMAB [Suspect]
     Active Substance: TOCILIZUMAB
     Route: 042
  1114. TOCILIZUMAB [Suspect]
     Active Substance: TOCILIZUMAB
     Route: 042
  1115. TOCILIZUMAB [Suspect]
     Active Substance: TOCILIZUMAB
     Route: 058
  1116. TOCILIZUMAB [Suspect]
     Active Substance: TOCILIZUMAB
     Route: 042
  1117. TOCILIZUMAB [Suspect]
     Active Substance: TOCILIZUMAB
     Route: 058
  1118. TOCILIZUMAB [Suspect]
     Active Substance: TOCILIZUMAB
     Route: 058
  1119. TOCILIZUMAB [Suspect]
     Active Substance: TOCILIZUMAB
     Route: 016
  1120. TOCILIZUMAB [Suspect]
     Active Substance: TOCILIZUMAB
     Route: 042
  1121. TOCILIZUMAB [Suspect]
     Active Substance: TOCILIZUMAB
     Route: 042
  1122. TOCILIZUMAB [Suspect]
     Active Substance: TOCILIZUMAB
     Route: 065
  1123. TOCILIZUMAB [Suspect]
     Active Substance: TOCILIZUMAB
     Route: 065
  1124. TOCILIZUMAB [Suspect]
     Active Substance: TOCILIZUMAB
     Route: 042
  1125. TOCILIZUMAB [Suspect]
     Active Substance: TOCILIZUMAB
     Route: 016
  1126. TOCILIZUMAB [Suspect]
     Active Substance: TOCILIZUMAB
     Route: 042
  1127. TOCILIZUMAB [Suspect]
     Active Substance: TOCILIZUMAB
     Route: 050
  1128. TOCILIZUMAB [Suspect]
     Active Substance: TOCILIZUMAB
     Route: 058
  1129. TOCILIZUMAB [Suspect]
     Active Substance: TOCILIZUMAB
     Route: 058
  1130. TOCILIZUMAB [Suspect]
     Active Substance: TOCILIZUMAB
     Route: 065
  1131. TOCILIZUMAB [Suspect]
     Active Substance: TOCILIZUMAB
     Route: 065
  1132. TOCILIZUMAB [Suspect]
     Active Substance: TOCILIZUMAB
     Route: 065
  1133. TOCILIZUMAB [Suspect]
     Active Substance: TOCILIZUMAB
     Route: 065
  1134. TOCILIZUMAB [Suspect]
     Active Substance: TOCILIZUMAB
     Indication: Rheumatoid arthritis
     Route: 058
  1135. TOFACITINIB [Suspect]
     Active Substance: TOFACITINIB
     Indication: Rheumatoid arthritis
     Route: 065
  1136. TOFACITINIB [Suspect]
     Active Substance: TOFACITINIB
     Route: 065
  1137. TOFACITINIB CITRATE [Suspect]
     Active Substance: TOFACITINIB CITRATE
     Route: 048
  1138. TOFACITINIB CITRATE [Suspect]
     Active Substance: TOFACITINIB CITRATE
     Indication: Rheumatoid arthritis
     Route: 065
  1139. TOFACITINIB CITRATE [Suspect]
     Active Substance: TOFACITINIB CITRATE
     Route: 065
  1140. TOFACITINIB CITRATE [Suspect]
     Active Substance: TOFACITINIB CITRATE
     Route: 065
  1141. TOFACITINIB CITRATE [Suspect]
     Active Substance: TOFACITINIB CITRATE
     Route: 065
  1142. TOFACITINIB CITRATE [Suspect]
     Active Substance: TOFACITINIB CITRATE
     Route: 065
  1143. TOFACITINIB CITRATE [Suspect]
     Active Substance: TOFACITINIB CITRATE
     Route: 065
  1144. TOFACITINIB CITRATE [Suspect]
     Active Substance: TOFACITINIB CITRATE
     Route: 065
  1145. TOFACITINIB CITRATE [Suspect]
     Active Substance: TOFACITINIB CITRATE
     Route: 065
  1146. TOPIRAMATE [Suspect]
     Active Substance: TOPIRAMATE
     Route: 065
  1147. TOPIRAMATE [Suspect]
     Active Substance: TOPIRAMATE
     Route: 065
  1148. TOPIRAMATE [Suspect]
     Active Substance: TOPIRAMATE
     Route: 065
  1149. TOPIRAMATE [Suspect]
     Active Substance: TOPIRAMATE
     Route: 065
  1150. TOPIRAMATE [Suspect]
     Active Substance: TOPIRAMATE
     Route: 065
  1151. TOPIRAMATE [Suspect]
     Active Substance: TOPIRAMATE
     Route: 065
  1152. TOPIRAMATE [Suspect]
     Active Substance: TOPIRAMATE
     Route: 065
  1153. TOPIRAMATE [Suspect]
     Active Substance: TOPIRAMATE
     Indication: Product used for unknown indication
     Route: 065
  1154. TRAMADOL HYDROCHLORIDE [Suspect]
     Active Substance: TRAMADOL HYDROCHLORIDE
     Route: 065
  1155. TRAMADOL HYDROCHLORIDE [Suspect]
     Active Substance: TRAMADOL HYDROCHLORIDE
     Route: 065
  1156. TRAMADOL HYDROCHLORIDE [Suspect]
     Active Substance: TRAMADOL HYDROCHLORIDE
     Indication: Product used for unknown indication
     Route: 065
  1157. TRIAMCINOLONE ACETONIDE [Suspect]
     Active Substance: TRIAMCINOLONE ACETONIDE
     Route: 058
  1158. TRIAMCINOLONE ACETONIDE [Suspect]
     Active Substance: TRIAMCINOLONE ACETONIDE
     Route: 065
  1159. TRIAMCINOLONE ACETONIDE [Suspect]
     Active Substance: TRIAMCINOLONE ACETONIDE
     Route: 014
  1160. TRIAMCINOLONE ACETONIDE [Suspect]
     Active Substance: TRIAMCINOLONE ACETONIDE
     Route: 058
  1161. TRIAMCINOLONE ACETONIDE [Suspect]
     Active Substance: TRIAMCINOLONE ACETONIDE
     Route: 065
  1162. TRIAMCINOLONE ACETONIDE [Suspect]
     Active Substance: TRIAMCINOLONE ACETONIDE
     Indication: Rheumatoid arthritis
     Route: 013
  1163. USTEKINUMAB [Suspect]
     Active Substance: USTEKINUMAB
     Route: 065
  1164. USTEKINUMAB [Suspect]
     Active Substance: USTEKINUMAB
     Indication: Product used for unknown indication
     Route: 058
  1165. VITAMIN C [Suspect]
     Active Substance: ASCORBIC ACID
     Indication: Product used for unknown indication
     Route: 065
  1166. VITAMIN C [Suspect]
     Active Substance: ASCORBIC ACID
     Route: 065
  1167. VITAMIN C [Suspect]
     Active Substance: ASCORBIC ACID
     Route: 065
  1168. VITAMIN D3 [Suspect]
     Active Substance: CHOLECALCIFEROL
     Indication: Product used for unknown indication
     Route: 065
  1169. VOLTAREN [Suspect]
     Active Substance: DICLOFENAC SODIUM
     Indication: Product used for unknown indication
     Route: 065
  1170. XELJANZ [Suspect]
     Active Substance: TOFACITINIB CITRATE
     Route: 065
  1171. XELJANZ [Suspect]
     Active Substance: TOFACITINIB CITRATE
     Route: 048
  1172. XELJANZ [Suspect]
     Active Substance: TOFACITINIB CITRATE
     Route: 065
  1173. XELJANZ [Suspect]
     Active Substance: TOFACITINIB CITRATE
     Route: 048
  1174. XELJANZ [Suspect]
     Active Substance: TOFACITINIB CITRATE
     Route: 048
  1175. XELJANZ [Suspect]
     Active Substance: TOFACITINIB CITRATE
     Route: 048
  1176. XELJANZ [Suspect]
     Active Substance: TOFACITINIB CITRATE
     Route: 048
  1177. XELJANZ [Suspect]
     Active Substance: TOFACITINIB CITRATE
     Indication: Rheumatoid arthritis
     Route: 065
  1178. XELJANZ [Suspect]
     Active Substance: TOFACITINIB CITRATE
     Route: 065
  1179. XELJANZ [Suspect]
     Active Substance: TOFACITINIB CITRATE
     Route: 065
  1180. XELJANZ [Suspect]
     Active Substance: TOFACITINIB CITRATE
     Route: 065
  1181. XELJANZ [Suspect]
     Active Substance: TOFACITINIB CITRATE
     Route: 065
  1182. XELJANZ [Suspect]
     Active Substance: TOFACITINIB CITRATE
     Route: 065
  1183. ZINC [Suspect]
     Active Substance: ZINC
     Indication: Product used for unknown indication
     Route: 065
  1184. DESOGESTREL AND ETHINYL ESTRADIOL [Concomitant]
     Active Substance: DESOGESTREL\ETHINYL ESTRADIOL
     Route: 065
  1185. DESOGESTREL AND ETHINYL ESTRADIOL [Concomitant]
     Active Substance: DESOGESTREL\ETHINYL ESTRADIOL
     Route: 065
  1186. DESOGESTREL AND ETHINYL ESTRADIOL [Concomitant]
     Active Substance: DESOGESTREL\ETHINYL ESTRADIOL
     Indication: Product used for unknown indication
     Route: 065

REACTIONS (123)
  - Abdominal discomfort [Fatal]
  - Abdominal distension [Fatal]
  - Abdominal pain upper [Fatal]
  - Adverse reaction [Fatal]
  - Alopecia [Fatal]
  - Anti-cyclic citrullinated peptide antibody positive [Fatal]
  - Arthralgia [Fatal]
  - Arthropathy [Fatal]
  - Asthenia [Fatal]
  - Back injury [Fatal]
  - Blepharospasm [Fatal]
  - Blister [Fatal]
  - Blood cholesterol increased [Fatal]
  - Breast cancer stage III [Fatal]
  - Bursitis [Fatal]
  - C-reactive protein abnormal [Fatal]
  - C-reactive protein increased [Fatal]
  - Coeliac disease [Fatal]
  - Condition aggravated [Fatal]
  - Confusional state [Fatal]
  - Contraindicated product administered [Fatal]
  - Depression [Fatal]
  - Diarrhoea [Fatal]
  - Dizziness [Fatal]
  - Drug hypersensitivity [Fatal]
  - Drug ineffective [Fatal]
  - Drug intolerance [Fatal]
  - Drug-induced liver injury [Fatal]
  - Dry mouth [Fatal]
  - Duodenal ulcer perforation [Fatal]
  - Dyspepsia [Fatal]
  - Dyspnoea [Fatal]
  - Epilepsy [Fatal]
  - Exposure during pregnancy [Fatal]
  - Facet joint syndrome [Fatal]
  - Fall [Fatal]
  - Fatigue [Fatal]
  - Fibromyalgia [Fatal]
  - Finger deformity [Fatal]
  - Folliculitis [Fatal]
  - Gait inability [Fatal]
  - Gastrointestinal disorder [Fatal]
  - Gastrooesophageal reflux disease [Fatal]
  - General physical health deterioration [Fatal]
  - Glossodynia [Fatal]
  - Grip strength decreased [Fatal]
  - Hand deformity [Fatal]
  - Headache [Fatal]
  - Helicobacter infection [Fatal]
  - Hepatic enzyme increased [Fatal]
  - Hepatitis [Fatal]
  - Hypercholesterolaemia [Fatal]
  - Hypersensitivity [Fatal]
  - Hypertension [Fatal]
  - Hypoaesthesia [Fatal]
  - Ill-defined disorder [Fatal]
  - Impaired healing [Fatal]
  - Inflammation [Fatal]
  - Infusion related reaction [Fatal]
  - Injection site reaction [Fatal]
  - Injury [Fatal]
  - Insomnia [Fatal]
  - Intentional product use issue [Fatal]
  - Irritable bowel syndrome [Fatal]
  - Joint range of motion decreased [Fatal]
  - Joint swelling [Fatal]
  - Lip dry [Fatal]
  - Live birth [Fatal]
  - Liver function test increased [Fatal]
  - Liver injury [Fatal]
  - Loss of personal independence in daily activities [Fatal]
  - Lower respiratory tract infection [Fatal]
  - Lung disorder [Fatal]
  - Malaise [Fatal]
  - Maternal exposure during pregnancy [Fatal]
  - Memory impairment [Fatal]
  - Migraine [Fatal]
  - Mobility decreased [Fatal]
  - Muscle injury [Fatal]
  - Muscle spasms [Fatal]
  - Muscular weakness [Fatal]
  - Musculoskeletal stiffness [Fatal]
  - Nail disorder [Fatal]
  - Nasopharyngitis [Fatal]
  - Nausea [Fatal]
  - Neck pain [Fatal]
  - Night sweats [Fatal]
  - Obesity [Fatal]
  - Off label use [Fatal]
  - Onychomadesis [Fatal]
  - Onychomycosis [Fatal]
  - Osteoarthritis [Fatal]
  - Pain [Fatal]
  - Pain in extremity [Fatal]
  - Paraesthesia [Fatal]
  - Pemphigus [Fatal]
  - Pericarditis [Fatal]
  - Peripheral swelling [Fatal]
  - Peripheral venous disease [Fatal]
  - Pneumonia [Fatal]
  - Product label confusion [Fatal]
  - Product quality issue [Fatal]
  - Product use in unapproved indication [Fatal]
  - Psoriatic arthropathy [Fatal]
  - Rash [Fatal]
  - Rheumatic fever [Fatal]
  - Rheumatoid arthritis [Fatal]
  - Sleep disorder [Fatal]
  - Stomatitis [Fatal]
  - Swelling [Fatal]
  - Synovitis [Fatal]
  - Systemic lupus erythematosus [Fatal]
  - Taste disorder [Fatal]
  - Therapeutic product effect decreased [Fatal]
  - Treatment failure [Fatal]
  - Type 2 diabetes mellitus [Fatal]
  - Urticaria [Fatal]
  - Vomiting [Fatal]
  - Weight increased [Fatal]
  - Wheezing [Fatal]
  - Wound [Fatal]
  - Wound infection [Fatal]
  - Decreased appetite [Fatal]
